FAERS Safety Report 24678744 (Version 9)
Quarter: 2025Q1

REPORT INFORMATION
  Report Type: Other
  Country: GB (occurrence: GB)
  Receive Date: 20241129
  Receipt Date: 20250313
  Transmission Date: 20250409
  Serious: Yes (Other)
  Sender: STRIDES
  Company Number: GB-TILLOMEDPR-2024-EPL-005196

PATIENT
  Age: 41 Year
  Sex: Female

DRUGS (1184)
  1. MYCOPHENOLATE MOFETIL [Suspect]
     Active Substance: MYCOPHENOLATE MOFETIL
     Indication: Product used for unknown indication
     Route: 065
  2. MYCOPHENOLATE MOFETIL [Suspect]
     Active Substance: MYCOPHENOLATE MOFETIL
     Route: 065
  3. MYCOPHENOLATE MOFETIL [Suspect]
     Active Substance: MYCOPHENOLATE MOFETIL
     Route: 065
  4. MYCOPHENOLATE MOFETIL [Suspect]
     Active Substance: MYCOPHENOLATE MOFETIL
     Route: 065
  5. MYCOPHENOLATE MOFETIL [Suspect]
     Active Substance: MYCOPHENOLATE MOFETIL
     Route: 065
  6. MYCOPHENOLATE MOFETIL [Suspect]
     Active Substance: MYCOPHENOLATE MOFETIL
     Route: 065
  7. MYCOPHENOLATE MOFETIL [Suspect]
     Active Substance: MYCOPHENOLATE MOFETIL
     Route: 065
  8. MYCOPHENOLATE MOFETIL [Suspect]
     Active Substance: MYCOPHENOLATE MOFETIL
     Route: 065
  9. MYCOPHENOLATE MOFETIL [Suspect]
     Active Substance: MYCOPHENOLATE MOFETIL
     Route: 065
  10. MYCOPHENOLATE MOFETIL [Suspect]
     Active Substance: MYCOPHENOLATE MOFETIL
     Route: 065
  11. MYCOPHENOLATE MOFETIL [Suspect]
     Active Substance: MYCOPHENOLATE MOFETIL
     Route: 065
  12. MYCOPHENOLATE MOFETIL [Suspect]
     Active Substance: MYCOPHENOLATE MOFETIL
     Route: 065
  13. CYCLOSPORINE [Suspect]
     Active Substance: CYCLOSPORINE
     Indication: Product used for unknown indication
     Route: 065
  14. CYCLOSPORINE [Suspect]
     Active Substance: CYCLOSPORINE
     Route: 065
  15. CYCLOSPORINE [Suspect]
     Active Substance: CYCLOSPORINE
     Route: 065
  16. CYCLOSPORINE [Suspect]
     Active Substance: CYCLOSPORINE
     Route: 065
  17. CYCLOSPORINE [Suspect]
     Active Substance: CYCLOSPORINE
     Route: 065
  18. CYCLOSPORINE [Suspect]
     Active Substance: CYCLOSPORINE
     Route: 065
  19. CYCLOSPORINE [Suspect]
     Active Substance: CYCLOSPORINE
     Route: 065
  20. CYCLOSPORINE [Suspect]
     Active Substance: CYCLOSPORINE
     Route: 065
  21. CYCLOSPORINE [Suspect]
     Active Substance: CYCLOSPORINE
     Route: 065
  22. CYCLOSPORINE [Suspect]
     Active Substance: CYCLOSPORINE
     Route: 065
  23. CYCLOSPORINE [Suspect]
     Active Substance: CYCLOSPORINE
     Route: 065
  24. CYCLOSPORINE [Suspect]
     Active Substance: CYCLOSPORINE
     Route: 065
  25. CYCLOSPORINE [Suspect]
     Active Substance: CYCLOSPORINE
     Route: 065
  26. CYCLOSPORINE [Suspect]
     Active Substance: CYCLOSPORINE
     Route: 065
  27. CYCLOSPORINE [Suspect]
     Active Substance: CYCLOSPORINE
     Route: 065
  28. CYCLOSPORINE [Suspect]
     Active Substance: CYCLOSPORINE
     Route: 065
  29. CYCLOSPORINE [Suspect]
     Active Substance: CYCLOSPORINE
     Route: 065
  30. CYCLOSPORINE [Suspect]
     Active Substance: CYCLOSPORINE
     Route: 065
  31. CYCLOSPORINE [Suspect]
     Active Substance: CYCLOSPORINE
     Route: 065
  32. CYCLOSPORINE [Suspect]
     Active Substance: CYCLOSPORINE
     Route: 065
  33. CYCLOSPORINE [Suspect]
     Active Substance: CYCLOSPORINE
     Route: 065
  34. CYCLOSPORINE [Suspect]
     Active Substance: CYCLOSPORINE
     Route: 065
  35. CYCLOSPORINE [Suspect]
     Active Substance: CYCLOSPORINE
     Route: 065
  36. CYCLOSPORINE [Suspect]
     Active Substance: CYCLOSPORINE
     Route: 065
  37. CYCLOSPORINE [Suspect]
     Active Substance: CYCLOSPORINE
     Route: 065
  38. CYCLOSPORINE [Suspect]
     Active Substance: CYCLOSPORINE
     Route: 065
  39. CYCLOSPORINE [Suspect]
     Active Substance: CYCLOSPORINE
     Route: 065
  40. CYCLOSPORINE [Suspect]
     Active Substance: CYCLOSPORINE
     Route: 065
  41. CYCLOSPORINE [Suspect]
     Active Substance: CYCLOSPORINE
     Route: 065
  42. CYCLOSPORINE [Suspect]
     Active Substance: CYCLOSPORINE
     Route: 065
  43. CYCLOSPORINE [Suspect]
     Active Substance: CYCLOSPORINE
     Route: 065
  44. CYCLOSPORINE [Suspect]
     Active Substance: CYCLOSPORINE
     Route: 065
  45. CYCLOSPORINE [Suspect]
     Active Substance: CYCLOSPORINE
     Route: 065
  46. CYCLOSPORINE [Suspect]
     Active Substance: CYCLOSPORINE
     Route: 065
  47. CYCLOSPORINE [Suspect]
     Active Substance: CYCLOSPORINE
     Route: 065
  48. CYCLOSPORINE [Suspect]
     Active Substance: CYCLOSPORINE
     Route: 065
  49. CYCLOSPORINE [Suspect]
     Active Substance: CYCLOSPORINE
     Route: 065
  50. CYCLOSPORINE [Suspect]
     Active Substance: CYCLOSPORINE
     Route: 065
  51. CYCLOSPORINE [Suspect]
     Active Substance: CYCLOSPORINE
     Route: 065
  52. CYCLOSPORINE [Suspect]
     Active Substance: CYCLOSPORINE
     Route: 065
  53. CYCLOSPORINE [Suspect]
     Active Substance: CYCLOSPORINE
     Route: 065
  54. CYCLOSPORINE [Suspect]
     Active Substance: CYCLOSPORINE
     Route: 065
  55. CYCLOSPORINE [Suspect]
     Active Substance: CYCLOSPORINE
     Route: 065
  56. CYCLOSPORINE [Suspect]
     Active Substance: CYCLOSPORINE
     Route: 065
  57. CYCLOSPORINE [Suspect]
     Active Substance: CYCLOSPORINE
     Route: 065
  58. CYCLOSPORINE [Suspect]
     Active Substance: CYCLOSPORINE
     Route: 065
  59. CYCLOSPORINE [Suspect]
     Active Substance: CYCLOSPORINE
     Route: 065
  60. CYCLOSPORINE [Suspect]
     Active Substance: CYCLOSPORINE
     Route: 065
  61. CYCLOSPORINE [Suspect]
     Active Substance: CYCLOSPORINE
     Route: 065
  62. CYCLOSPORINE [Suspect]
     Active Substance: CYCLOSPORINE
     Route: 065
  63. PREDNISOLONE [Suspect]
     Active Substance: PREDNISOLONE
     Indication: Chronic spontaneous urticaria
     Route: 065
  64. PREDNISOLONE [Suspect]
     Active Substance: PREDNISOLONE
     Route: 065
  65. PREDNISOLONE [Suspect]
     Active Substance: PREDNISOLONE
     Route: 065
  66. AZATHIOPRINE [Suspect]
     Active Substance: AZATHIOPRINE
     Indication: Chronic spontaneous urticaria
     Route: 065
  67. AZATHIOPRINE [Suspect]
     Active Substance: AZATHIOPRINE
  68. AZATHIOPRINE [Suspect]
     Active Substance: AZATHIOPRINE
  69. AZATHIOPRINE [Suspect]
     Active Substance: AZATHIOPRINE
  70. AZATHIOPRINE [Suspect]
     Active Substance: AZATHIOPRINE
  71. AZATHIOPRINE [Suspect]
     Active Substance: AZATHIOPRINE
  72. AZATHIOPRINE [Suspect]
     Active Substance: AZATHIOPRINE
  73. AZATHIOPRINE [Suspect]
     Active Substance: AZATHIOPRINE
  74. AZATHIOPRINE [Suspect]
     Active Substance: AZATHIOPRINE
  75. AZATHIOPRINE [Suspect]
     Active Substance: AZATHIOPRINE
  76. AZATHIOPRINE [Suspect]
     Active Substance: AZATHIOPRINE
  77. AZATHIOPRINE [Suspect]
     Active Substance: AZATHIOPRINE
  78. AZATHIOPRINE [Suspect]
     Active Substance: AZATHIOPRINE
  79. AZATHIOPRINE [Suspect]
     Active Substance: AZATHIOPRINE
  80. AZATHIOPRINE [Suspect]
     Active Substance: AZATHIOPRINE
  81. AZATHIOPRINE [Suspect]
     Active Substance: AZATHIOPRINE
  82. AZATHIOPRINE [Suspect]
     Active Substance: AZATHIOPRINE
  83. AZATHIOPRINE [Suspect]
     Active Substance: AZATHIOPRINE
  84. AZATHIOPRINE [Suspect]
     Active Substance: AZATHIOPRINE
  85. AZATHIOPRINE [Suspect]
     Active Substance: AZATHIOPRINE
  86. AZATHIOPRINE [Suspect]
     Active Substance: AZATHIOPRINE
  87. AZATHIOPRINE [Suspect]
     Active Substance: AZATHIOPRINE
  88. AZATHIOPRINE [Suspect]
     Active Substance: AZATHIOPRINE
  89. AZATHIOPRINE [Suspect]
     Active Substance: AZATHIOPRINE
  90. AZATHIOPRINE [Suspect]
     Active Substance: AZATHIOPRINE
  91. AZATHIOPRINE [Suspect]
     Active Substance: AZATHIOPRINE
  92. AZATHIOPRINE [Suspect]
     Active Substance: AZATHIOPRINE
  93. AZATHIOPRINE [Suspect]
     Active Substance: AZATHIOPRINE
  94. AZATHIOPRINE [Suspect]
     Active Substance: AZATHIOPRINE
  95. AZATHIOPRINE [Suspect]
     Active Substance: AZATHIOPRINE
  96. AZATHIOPRINE [Suspect]
     Active Substance: AZATHIOPRINE
  97. AZATHIOPRINE [Suspect]
     Active Substance: AZATHIOPRINE
  98. AZATHIOPRINE [Suspect]
     Active Substance: AZATHIOPRINE
  99. AZATHIOPRINE [Suspect]
     Active Substance: AZATHIOPRINE
  100. AZATHIOPRINE [Suspect]
     Active Substance: AZATHIOPRINE
  101. AZATHIOPRINE [Suspect]
     Active Substance: AZATHIOPRINE
  102. AZATHIOPRINE [Suspect]
     Active Substance: AZATHIOPRINE
  103. AZATHIOPRINE [Suspect]
     Active Substance: AZATHIOPRINE
  104. AZATHIOPRINE [Suspect]
     Active Substance: AZATHIOPRINE
  105. AZATHIOPRINE [Suspect]
     Active Substance: AZATHIOPRINE
  106. AZATHIOPRINE [Suspect]
     Active Substance: AZATHIOPRINE
  107. AZATHIOPRINE [Suspect]
     Active Substance: AZATHIOPRINE
  108. AZATHIOPRINE [Suspect]
     Active Substance: AZATHIOPRINE
  109. AZATHIOPRINE [Suspect]
     Active Substance: AZATHIOPRINE
  110. AZATHIOPRINE [Suspect]
     Active Substance: AZATHIOPRINE
  111. AZATHIOPRINE [Suspect]
     Active Substance: AZATHIOPRINE
  112. DAPSONE [Suspect]
     Active Substance: DAPSONE
     Indication: Product used for unknown indication
     Route: 065
  113. DAPSONE [Suspect]
     Active Substance: DAPSONE
     Indication: Product used for unknown indication
     Route: 065
  114. DAPSONE [Suspect]
     Active Substance: DAPSONE
     Indication: Antiphospholipid syndrome
     Route: 065
  115. DAPSONE [Suspect]
     Active Substance: DAPSONE
     Route: 065
  116. DAPSONE [Suspect]
     Active Substance: DAPSONE
     Route: 065
  117. DAPSONE [Suspect]
     Active Substance: DAPSONE
     Route: 065
  118. DAPSONE [Suspect]
     Active Substance: DAPSONE
     Route: 065
  119. DAPSONE [Suspect]
     Active Substance: DAPSONE
     Route: 065
  120. DAPSONE [Suspect]
     Active Substance: DAPSONE
     Route: 065
  121. DAPSONE [Suspect]
     Active Substance: DAPSONE
     Route: 065
  122. DAPSONE [Suspect]
     Active Substance: DAPSONE
     Route: 065
  123. DAPSONE [Suspect]
     Active Substance: DAPSONE
     Route: 065
  124. DAPSONE [Suspect]
     Active Substance: DAPSONE
     Route: 065
  125. DAPSONE [Suspect]
     Active Substance: DAPSONE
     Route: 065
  126. DAPSONE [Suspect]
     Active Substance: DAPSONE
     Route: 065
  127. DAPSONE [Suspect]
     Active Substance: DAPSONE
     Route: 065
  128. DAPSONE [Suspect]
     Active Substance: DAPSONE
     Route: 065
  129. DAPSONE [Suspect]
     Active Substance: DAPSONE
     Route: 065
  130. DAPSONE [Suspect]
     Active Substance: DAPSONE
     Route: 065
  131. DAPSONE [Suspect]
     Active Substance: DAPSONE
     Route: 065
  132. DAPSONE [Suspect]
     Active Substance: DAPSONE
     Route: 065
  133. DAPSONE [Suspect]
     Active Substance: DAPSONE
     Route: 065
  134. DAPSONE [Suspect]
     Active Substance: DAPSONE
     Route: 065
  135. DAPSONE [Suspect]
     Active Substance: DAPSONE
     Route: 065
  136. DAPSONE [Suspect]
     Active Substance: DAPSONE
     Route: 065
  137. DAPSONE [Suspect]
     Active Substance: DAPSONE
     Route: 065
  138. DAPSONE [Suspect]
     Active Substance: DAPSONE
     Route: 065
  139. DAPSONE [Suspect]
     Active Substance: DAPSONE
     Route: 065
  140. DAPSONE [Suspect]
     Active Substance: DAPSONE
     Route: 065
  141. DAPSONE [Suspect]
     Active Substance: DAPSONE
     Route: 065
  142. DAPSONE [Suspect]
     Active Substance: DAPSONE
     Route: 065
  143. DAPSONE [Suspect]
     Active Substance: DAPSONE
     Route: 065
  144. DAPSONE [Suspect]
     Active Substance: DAPSONE
     Route: 065
  145. DAPSONE [Suspect]
     Active Substance: DAPSONE
     Route: 065
  146. DAPSONE [Suspect]
     Active Substance: DAPSONE
     Route: 065
  147. DAPSONE [Suspect]
     Active Substance: DAPSONE
     Route: 065
  148. DAPSONE [Suspect]
     Active Substance: DAPSONE
     Route: 065
  149. DAPSONE [Suspect]
     Active Substance: DAPSONE
     Route: 065
  150. DAPSONE [Suspect]
     Active Substance: DAPSONE
     Route: 065
  151. DAPSONE [Suspect]
     Active Substance: DAPSONE
     Route: 065
  152. DAPSONE [Suspect]
     Active Substance: DAPSONE
     Route: 065
  153. DAPSONE [Suspect]
     Active Substance: DAPSONE
     Route: 065
  154. DAPSONE [Suspect]
     Active Substance: DAPSONE
     Route: 065
  155. DAPSONE [Suspect]
     Active Substance: DAPSONE
     Route: 065
  156. DAPSONE [Suspect]
     Active Substance: DAPSONE
     Route: 065
  157. DAPSONE [Suspect]
     Active Substance: DAPSONE
     Route: 065
  158. DAPSONE [Suspect]
     Active Substance: DAPSONE
     Route: 065
  159. DAPSONE [Suspect]
     Active Substance: DAPSONE
     Route: 065
  160. DAPSONE [Suspect]
     Active Substance: DAPSONE
     Route: 065
  161. DAPSONE [Suspect]
     Active Substance: DAPSONE
     Route: 065
  162. DAPSONE [Suspect]
     Active Substance: DAPSONE
  163. DAPSONE [Suspect]
     Active Substance: DAPSONE
  164. DAPSONE [Suspect]
     Active Substance: DAPSONE
  165. DAPSONE [Suspect]
     Active Substance: DAPSONE
  166. DAPSONE [Suspect]
     Active Substance: DAPSONE
  167. DAPSONE [Suspect]
     Active Substance: DAPSONE
  168. DAPSONE [Suspect]
     Active Substance: DAPSONE
  169. DAPSONE [Suspect]
     Active Substance: DAPSONE
  170. DAPSONE [Suspect]
     Active Substance: DAPSONE
  171. DAPSONE [Suspect]
     Active Substance: DAPSONE
  172. DAPSONE [Suspect]
     Active Substance: DAPSONE
  173. DAPSONE [Suspect]
     Active Substance: DAPSONE
  174. DAPSONE [Suspect]
     Active Substance: DAPSONE
  175. DAPSONE [Suspect]
     Active Substance: DAPSONE
  176. DAPSONE [Suspect]
     Active Substance: DAPSONE
  177. DAPSONE [Suspect]
     Active Substance: DAPSONE
  178. DAPSONE [Suspect]
     Active Substance: DAPSONE
  179. DAPSONE [Suspect]
     Active Substance: DAPSONE
  180. DAPSONE [Suspect]
     Active Substance: DAPSONE
  181. DAPSONE [Suspect]
     Active Substance: DAPSONE
  182. DAPSONE [Suspect]
     Active Substance: DAPSONE
  183. DAPSONE [Suspect]
     Active Substance: DAPSONE
  184. DAPSONE [Suspect]
     Active Substance: DAPSONE
  185. DAPSONE [Suspect]
     Active Substance: DAPSONE
  186. DAPSONE [Suspect]
     Active Substance: DAPSONE
  187. DAPSONE [Suspect]
     Active Substance: DAPSONE
  188. DAPSONE [Suspect]
     Active Substance: DAPSONE
  189. DAPSONE [Suspect]
     Active Substance: DAPSONE
  190. DAPSONE [Suspect]
     Active Substance: DAPSONE
  191. DAPSONE [Suspect]
     Active Substance: DAPSONE
  192. DAPSONE [Suspect]
     Active Substance: DAPSONE
  193. DAPSONE [Suspect]
     Active Substance: DAPSONE
  194. DAPSONE [Suspect]
     Active Substance: DAPSONE
  195. DAPSONE [Suspect]
     Active Substance: DAPSONE
  196. DAPSONE [Suspect]
     Active Substance: DAPSONE
  197. DAPSONE [Suspect]
     Active Substance: DAPSONE
  198. DAPSONE [Suspect]
     Active Substance: DAPSONE
  199. DAPSONE [Suspect]
     Active Substance: DAPSONE
  200. DAPSONE [Suspect]
     Active Substance: DAPSONE
  201. DAPSONE [Suspect]
     Active Substance: DAPSONE
  202. DAPSONE [Suspect]
     Active Substance: DAPSONE
  203. DAPSONE [Suspect]
     Active Substance: DAPSONE
  204. DAPSONE [Suspect]
     Active Substance: DAPSONE
  205. DAPSONE [Suspect]
     Active Substance: DAPSONE
  206. DAPSONE [Suspect]
     Active Substance: DAPSONE
  207. DAPSONE [Suspect]
     Active Substance: DAPSONE
  208. DAPSONE [Suspect]
     Active Substance: DAPSONE
  209. DAPSONE [Suspect]
     Active Substance: DAPSONE
  210. DAPSONE [Suspect]
     Active Substance: DAPSONE
  211. DAPSONE [Suspect]
     Active Substance: DAPSONE
  212. DAPSONE [Suspect]
     Active Substance: DAPSONE
  213. DAPSONE [Suspect]
     Active Substance: DAPSONE
  214. DAPSONE [Suspect]
     Active Substance: DAPSONE
  215. DAPSONE [Suspect]
     Active Substance: DAPSONE
  216. DAPSONE [Suspect]
     Active Substance: DAPSONE
  217. DAPSONE [Suspect]
     Active Substance: DAPSONE
  218. DAPSONE [Suspect]
     Active Substance: DAPSONE
  219. DAPSONE [Suspect]
     Active Substance: DAPSONE
  220. DAPSONE [Suspect]
     Active Substance: DAPSONE
  221. DAPSONE [Suspect]
     Active Substance: DAPSONE
  222. DAPSONE [Suspect]
     Active Substance: DAPSONE
  223. DAPSONE [Suspect]
     Active Substance: DAPSONE
  224. DAPSONE [Suspect]
     Active Substance: DAPSONE
  225. DAPSONE [Suspect]
     Active Substance: DAPSONE
  226. DAPSONE [Suspect]
     Active Substance: DAPSONE
  227. DAPSONE [Suspect]
     Active Substance: DAPSONE
  228. DAPSONE [Suspect]
     Active Substance: DAPSONE
  229. DAPSONE [Suspect]
     Active Substance: DAPSONE
  230. DAPSONE [Suspect]
     Active Substance: DAPSONE
  231. DAPSONE [Suspect]
     Active Substance: DAPSONE
  232. DAPSONE [Suspect]
     Active Substance: DAPSONE
  233. DAPSONE [Suspect]
     Active Substance: DAPSONE
  234. DAPSONE [Suspect]
     Active Substance: DAPSONE
  235. DAPSONE [Suspect]
     Active Substance: DAPSONE
  236. DAPSONE [Suspect]
     Active Substance: DAPSONE
  237. DAPSONE [Suspect]
     Active Substance: DAPSONE
  238. DAPSONE [Suspect]
     Active Substance: DAPSONE
  239. DAPSONE [Suspect]
     Active Substance: DAPSONE
  240. DAPSONE [Suspect]
     Active Substance: DAPSONE
  241. DAPSONE [Suspect]
     Active Substance: DAPSONE
  242. DAPSONE [Suspect]
     Active Substance: DAPSONE
  243. DAPSONE [Suspect]
     Active Substance: DAPSONE
  244. DAPSONE [Suspect]
     Active Substance: DAPSONE
  245. DAPSONE [Suspect]
     Active Substance: DAPSONE
  246. DAPSONE [Suspect]
     Active Substance: DAPSONE
  247. DAPSONE [Suspect]
     Active Substance: DAPSONE
  248. DAPSONE [Suspect]
     Active Substance: DAPSONE
  249. DAPSONE [Suspect]
     Active Substance: DAPSONE
  250. DAPSONE [Suspect]
     Active Substance: DAPSONE
  251. DAPSONE [Suspect]
     Active Substance: DAPSONE
  252. DAPSONE [Suspect]
     Active Substance: DAPSONE
  253. DAPSONE [Suspect]
     Active Substance: DAPSONE
  254. DAPSONE [Suspect]
     Active Substance: DAPSONE
  255. DAPSONE [Suspect]
     Active Substance: DAPSONE
  256. DAPSONE [Suspect]
     Active Substance: DAPSONE
  257. DAPSONE [Suspect]
     Active Substance: DAPSONE
  258. DAPSONE [Suspect]
     Active Substance: DAPSONE
  259. OMALIZUMAB [Suspect]
     Active Substance: OMALIZUMAB
     Indication: Chronic spontaneous urticaria
     Route: 065
  260. OMALIZUMAB [Suspect]
     Active Substance: OMALIZUMAB
     Route: 065
  261. OMALIZUMAB [Suspect]
     Active Substance: OMALIZUMAB
     Route: 065
  262. OMALIZUMAB [Suspect]
     Active Substance: OMALIZUMAB
     Route: 065
  263. OMALIZUMAB [Suspect]
     Active Substance: OMALIZUMAB
     Route: 065
  264. OMALIZUMAB [Suspect]
     Active Substance: OMALIZUMAB
     Route: 065
  265. OMALIZUMAB [Suspect]
     Active Substance: OMALIZUMAB
     Route: 065
  266. OMALIZUMAB [Suspect]
     Active Substance: OMALIZUMAB
     Route: 065
  267. OMALIZUMAB [Suspect]
     Active Substance: OMALIZUMAB
     Route: 065
  268. OMALIZUMAB [Suspect]
     Active Substance: OMALIZUMAB
     Route: 065
  269. OMALIZUMAB [Suspect]
     Active Substance: OMALIZUMAB
     Route: 065
  270. OMALIZUMAB [Suspect]
     Active Substance: OMALIZUMAB
     Route: 065
  271. OMALIZUMAB [Suspect]
     Active Substance: OMALIZUMAB
     Route: 065
  272. OMALIZUMAB [Suspect]
     Active Substance: OMALIZUMAB
     Route: 065
  273. OMALIZUMAB [Suspect]
     Active Substance: OMALIZUMAB
     Route: 065
  274. OMALIZUMAB [Suspect]
     Active Substance: OMALIZUMAB
     Route: 065
  275. OMALIZUMAB [Suspect]
     Active Substance: OMALIZUMAB
     Route: 065
  276. OMALIZUMAB [Suspect]
     Active Substance: OMALIZUMAB
     Route: 065
  277. OMALIZUMAB [Suspect]
     Active Substance: OMALIZUMAB
     Route: 065
  278. OMALIZUMAB [Suspect]
     Active Substance: OMALIZUMAB
     Route: 065
  279. OMALIZUMAB [Suspect]
     Active Substance: OMALIZUMAB
     Route: 065
  280. OMALIZUMAB [Suspect]
     Active Substance: OMALIZUMAB
     Route: 065
  281. OMALIZUMAB [Suspect]
     Active Substance: OMALIZUMAB
     Route: 065
  282. OMALIZUMAB [Suspect]
     Active Substance: OMALIZUMAB
     Route: 065
  283. OMALIZUMAB [Suspect]
     Active Substance: OMALIZUMAB
     Route: 065
  284. OMALIZUMAB [Suspect]
     Active Substance: OMALIZUMAB
     Route: 065
  285. OMALIZUMAB [Suspect]
     Active Substance: OMALIZUMAB
     Route: 065
  286. OMALIZUMAB [Suspect]
     Active Substance: OMALIZUMAB
     Route: 065
  287. RITUXIMAB [Suspect]
     Active Substance: RITUXIMAB
     Indication: Product used for unknown indication
     Route: 065
  288. RITUXIMAB [Suspect]
     Active Substance: RITUXIMAB
     Route: 065
  289. RITUXIMAB [Suspect]
     Active Substance: RITUXIMAB
     Route: 065
  290. RITUXIMAB [Suspect]
     Active Substance: RITUXIMAB
     Route: 065
  291. RITUXIMAB [Suspect]
     Active Substance: RITUXIMAB
     Route: 065
  292. RITUXIMAB [Suspect]
     Active Substance: RITUXIMAB
     Route: 065
  293. RITUXIMAB [Suspect]
     Active Substance: RITUXIMAB
     Route: 065
  294. RITUXIMAB [Suspect]
     Active Substance: RITUXIMAB
     Route: 065
  295. RITUXIMAB [Suspect]
     Active Substance: RITUXIMAB
     Route: 065
  296. RITUXIMAB [Suspect]
     Active Substance: RITUXIMAB
     Route: 065
  297. RITUXIMAB [Suspect]
     Active Substance: RITUXIMAB
     Route: 065
  298. RITUXIMAB [Suspect]
     Active Substance: RITUXIMAB
     Route: 065
  299. RITUXIMAB [Suspect]
     Active Substance: RITUXIMAB
     Route: 065
  300. RITUXIMAB [Suspect]
     Active Substance: RITUXIMAB
     Route: 065
  301. RITUXIMAB [Suspect]
     Active Substance: RITUXIMAB
     Route: 065
  302. RITUXIMAB [Suspect]
     Active Substance: RITUXIMAB
     Route: 065
  303. RITUXIMAB [Suspect]
     Active Substance: RITUXIMAB
     Route: 065
  304. RITUXIMAB [Suspect]
     Active Substance: RITUXIMAB
     Route: 065
  305. RITUXIMAB [Suspect]
     Active Substance: RITUXIMAB
     Route: 065
  306. RITUXIMAB [Suspect]
     Active Substance: RITUXIMAB
     Route: 065
  307. RITUXIMAB [Suspect]
     Active Substance: RITUXIMAB
     Route: 065
  308. RITUXIMAB [Suspect]
     Active Substance: RITUXIMAB
     Route: 065
  309. RITUXIMAB [Suspect]
     Active Substance: RITUXIMAB
     Route: 065
  310. RITUXIMAB [Suspect]
     Active Substance: RITUXIMAB
     Route: 065
  311. RITUXIMAB [Suspect]
     Active Substance: RITUXIMAB
     Route: 065
  312. RITUXIMAB [Suspect]
     Active Substance: RITUXIMAB
     Route: 065
  313. RITUXIMAB [Suspect]
     Active Substance: RITUXIMAB
     Route: 065
  314. RITUXIMAB [Suspect]
     Active Substance: RITUXIMAB
     Route: 065
  315. RITUXIMAB [Suspect]
     Active Substance: RITUXIMAB
     Route: 065
  316. RITUXIMAB [Suspect]
     Active Substance: RITUXIMAB
     Route: 065
  317. RITUXIMAB [Suspect]
     Active Substance: RITUXIMAB
     Route: 065
  318. RITUXIMAB [Suspect]
     Active Substance: RITUXIMAB
     Route: 065
  319. RITUXIMAB [Suspect]
     Active Substance: RITUXIMAB
     Route: 065
  320. RITUXIMAB [Suspect]
     Active Substance: RITUXIMAB
     Route: 065
  321. RITUXIMAB [Suspect]
     Active Substance: RITUXIMAB
     Route: 065
  322. RITUXIMAB [Suspect]
     Active Substance: RITUXIMAB
     Route: 065
  323. RITUXIMAB [Suspect]
     Active Substance: RITUXIMAB
     Route: 065
  324. RITUXIMAB [Suspect]
     Active Substance: RITUXIMAB
     Route: 065
  325. RITUXIMAB [Suspect]
     Active Substance: RITUXIMAB
     Route: 065
  326. RITUXIMAB [Suspect]
     Active Substance: RITUXIMAB
     Route: 065
  327. RITUXIMAB [Suspect]
     Active Substance: RITUXIMAB
     Route: 065
  328. RITUXIMAB [Suspect]
     Active Substance: RITUXIMAB
     Route: 065
  329. RITUXIMAB [Suspect]
     Active Substance: RITUXIMAB
     Route: 065
  330. RITUXIMAB [Suspect]
     Active Substance: RITUXIMAB
     Route: 065
  331. RITUXIMAB [Suspect]
     Active Substance: RITUXIMAB
     Route: 065
  332. RITUXIMAB [Suspect]
     Active Substance: RITUXIMAB
     Route: 065
  333. RITUXIMAB [Suspect]
     Active Substance: RITUXIMAB
     Route: 065
  334. RITUXIMAB [Suspect]
     Active Substance: RITUXIMAB
     Route: 065
  335. RITUXIMAB [Suspect]
     Active Substance: RITUXIMAB
     Route: 065
  336. RITUXIMAB [Suspect]
     Active Substance: RITUXIMAB
     Route: 065
  337. IMURAN [Suspect]
     Active Substance: AZATHIOPRINE
     Indication: Product used for unknown indication
     Route: 065
  338. IMURAN [Suspect]
     Active Substance: AZATHIOPRINE
     Indication: Chronic spontaneous urticaria
     Route: 065
  339. IMURAN [Suspect]
     Active Substance: AZATHIOPRINE
     Route: 065
  340. IMURAN [Suspect]
     Active Substance: AZATHIOPRINE
     Route: 065
  341. IMURAN [Suspect]
     Active Substance: AZATHIOPRINE
     Route: 065
  342. IMURAN [Suspect]
     Active Substance: AZATHIOPRINE
     Route: 065
  343. IMURAN [Suspect]
     Active Substance: AZATHIOPRINE
     Route: 065
  344. IMURAN [Suspect]
     Active Substance: AZATHIOPRINE
     Route: 065
  345. IMURAN [Suspect]
     Active Substance: AZATHIOPRINE
     Route: 065
  346. IMURAN [Suspect]
     Active Substance: AZATHIOPRINE
     Route: 065
  347. IMURAN [Suspect]
     Active Substance: AZATHIOPRINE
     Route: 065
  348. IMURAN [Suspect]
     Active Substance: AZATHIOPRINE
     Route: 065
  349. IMURAN [Suspect]
     Active Substance: AZATHIOPRINE
     Route: 065
  350. IMURAN [Suspect]
     Active Substance: AZATHIOPRINE
     Route: 065
  351. IMURAN [Suspect]
     Active Substance: AZATHIOPRINE
     Route: 065
  352. IMURAN [Suspect]
     Active Substance: AZATHIOPRINE
     Route: 065
  353. IMURAN [Suspect]
     Active Substance: AZATHIOPRINE
     Route: 065
  354. IMURAN [Suspect]
     Active Substance: AZATHIOPRINE
     Route: 065
  355. IMURAN [Suspect]
     Active Substance: AZATHIOPRINE
     Route: 065
  356. IMURAN [Suspect]
     Active Substance: AZATHIOPRINE
     Route: 065
  357. IMURAN [Suspect]
     Active Substance: AZATHIOPRINE
     Route: 065
  358. IMURAN [Suspect]
     Active Substance: AZATHIOPRINE
     Route: 065
  359. IMURAN [Suspect]
     Active Substance: AZATHIOPRINE
     Route: 065
  360. IMURAN [Suspect]
     Active Substance: AZATHIOPRINE
     Route: 065
  361. IMURAN [Suspect]
     Active Substance: AZATHIOPRINE
     Route: 065
  362. IMURAN [Suspect]
     Active Substance: AZATHIOPRINE
     Route: 065
  363. IMURAN [Suspect]
     Active Substance: AZATHIOPRINE
     Route: 065
  364. SULFASALAZINE [Suspect]
     Active Substance: SULFASALAZINE
     Indication: Product used for unknown indication
     Route: 065
  365. SULFASALAZINE [Suspect]
     Active Substance: SULFASALAZINE
     Indication: Chronic spontaneous urticaria
     Route: 065
  366. SULFASALAZINE [Suspect]
     Active Substance: SULFASALAZINE
     Indication: Autoimmune hypothyroidism
     Route: 065
  367. SULFASALAZINE [Suspect]
     Active Substance: SULFASALAZINE
     Route: 065
  368. SULFASALAZINE [Suspect]
     Active Substance: SULFASALAZINE
     Route: 065
  369. SULFASALAZINE [Suspect]
     Active Substance: SULFASALAZINE
     Route: 065
  370. SULFASALAZINE [Suspect]
     Active Substance: SULFASALAZINE
     Route: 065
  371. SULFASALAZINE [Suspect]
     Active Substance: SULFASALAZINE
     Route: 065
  372. SULFASALAZINE [Suspect]
     Active Substance: SULFASALAZINE
     Route: 065
  373. SULFASALAZINE [Suspect]
     Active Substance: SULFASALAZINE
     Route: 065
  374. SULFASALAZINE [Suspect]
     Active Substance: SULFASALAZINE
     Route: 065
  375. SULFASALAZINE [Suspect]
     Active Substance: SULFASALAZINE
     Route: 065
  376. OMALIZUMAB [Suspect]
     Active Substance: OMALIZUMAB
     Indication: Chronic spontaneous urticaria
  377. OMALIZUMAB [Suspect]
     Active Substance: OMALIZUMAB
  378. OMALIZUMAB [Suspect]
     Active Substance: OMALIZUMAB
  379. OMALIZUMAB [Suspect]
     Active Substance: OMALIZUMAB
  380. OMALIZUMAB [Suspect]
     Active Substance: OMALIZUMAB
  381. OMALIZUMAB [Suspect]
     Active Substance: OMALIZUMAB
  382. OMALIZUMAB [Suspect]
     Active Substance: OMALIZUMAB
  383. OMALIZUMAB [Suspect]
     Active Substance: OMALIZUMAB
  384. OMALIZUMAB [Suspect]
     Active Substance: OMALIZUMAB
  385. OMALIZUMAB [Suspect]
     Active Substance: OMALIZUMAB
  386. OMALIZUMAB [Suspect]
     Active Substance: OMALIZUMAB
  387. OMALIZUMAB [Suspect]
     Active Substance: OMALIZUMAB
  388. OMALIZUMAB [Suspect]
     Active Substance: OMALIZUMAB
  389. OMALIZUMAB [Suspect]
     Active Substance: OMALIZUMAB
  390. OMALIZUMAB [Suspect]
     Active Substance: OMALIZUMAB
  391. OMALIZUMAB [Suspect]
     Active Substance: OMALIZUMAB
  392. OMALIZUMAB [Suspect]
     Active Substance: OMALIZUMAB
  393. OMALIZUMAB [Suspect]
     Active Substance: OMALIZUMAB
  394. OMALIZUMAB [Suspect]
     Active Substance: OMALIZUMAB
  395. OMALIZUMAB [Suspect]
     Active Substance: OMALIZUMAB
  396. OMALIZUMAB [Suspect]
     Active Substance: OMALIZUMAB
  397. OMALIZUMAB [Suspect]
     Active Substance: OMALIZUMAB
  398. CYCLOSPORINE [Suspect]
     Active Substance: CYCLOSPORINE
     Indication: Product used for unknown indication
     Route: 065
  399. CYCLOSPORINE [Suspect]
     Active Substance: CYCLOSPORINE
  400. CYCLOSPORINE [Suspect]
     Active Substance: CYCLOSPORINE
  401. CYCLOSPORINE [Suspect]
     Active Substance: CYCLOSPORINE
  402. CYCLOSPORINE [Suspect]
     Active Substance: CYCLOSPORINE
  403. CYCLOSPORINE [Suspect]
     Active Substance: CYCLOSPORINE
  404. CYCLOSPORINE [Suspect]
     Active Substance: CYCLOSPORINE
  405. CYCLOSPORINE [Suspect]
     Active Substance: CYCLOSPORINE
  406. CYCLOSPORINE [Suspect]
     Active Substance: CYCLOSPORINE
  407. CYCLOSPORINE [Suspect]
     Active Substance: CYCLOSPORINE
  408. CYCLOSPORINE [Suspect]
     Active Substance: CYCLOSPORINE
  409. CYCLOSPORINE [Suspect]
     Active Substance: CYCLOSPORINE
  410. CYCLOSPORINE [Suspect]
     Active Substance: CYCLOSPORINE
  411. CYCLOSPORINE [Suspect]
     Active Substance: CYCLOSPORINE
  412. CYCLOSPORINE [Suspect]
     Active Substance: CYCLOSPORINE
  413. CYCLOSPORINE [Suspect]
     Active Substance: CYCLOSPORINE
  414. CYCLOSPORINE [Suspect]
     Active Substance: CYCLOSPORINE
  415. CYCLOSPORINE [Suspect]
     Active Substance: CYCLOSPORINE
  416. CYCLOSPORINE [Suspect]
     Active Substance: CYCLOSPORINE
  417. CYCLOSPORINE [Suspect]
     Active Substance: CYCLOSPORINE
  418. CYCLOSPORINE [Suspect]
     Active Substance: CYCLOSPORINE
  419. CYCLOSPORINE [Suspect]
     Active Substance: CYCLOSPORINE
  420. CYCLOSPORINE [Suspect]
     Active Substance: CYCLOSPORINE
  421. CYCLOSPORINE [Suspect]
     Active Substance: CYCLOSPORINE
  422. CYCLOSPORINE [Suspect]
     Active Substance: CYCLOSPORINE
  423. CYCLOSPORINE [Suspect]
     Active Substance: CYCLOSPORINE
  424. CYCLOSPORINE [Suspect]
     Active Substance: CYCLOSPORINE
  425. CYCLOSPORINE [Suspect]
     Active Substance: CYCLOSPORINE
  426. CYCLOSPORINE [Suspect]
     Active Substance: CYCLOSPORINE
  427. CYCLOSPORINE [Suspect]
     Active Substance: CYCLOSPORINE
  428. CYCLOSPORINE [Suspect]
     Active Substance: CYCLOSPORINE
  429. CYCLOSPORINE [Suspect]
     Active Substance: CYCLOSPORINE
  430. CYCLOSPORINE [Suspect]
     Active Substance: CYCLOSPORINE
  431. CYCLOSPORINE [Suspect]
     Active Substance: CYCLOSPORINE
  432. CYCLOSPORINE [Suspect]
     Active Substance: CYCLOSPORINE
  433. CYCLOSPORINE [Suspect]
     Active Substance: CYCLOSPORINE
  434. CYCLOSPORINE [Suspect]
     Active Substance: CYCLOSPORINE
  435. CYCLOSPORINE [Suspect]
     Active Substance: CYCLOSPORINE
  436. CYCLOSPORINE [Suspect]
     Active Substance: CYCLOSPORINE
  437. CYCLOSPORINE [Suspect]
     Active Substance: CYCLOSPORINE
  438. CYCLOSPORINE [Suspect]
     Active Substance: CYCLOSPORINE
  439. CYCLOSPORINE [Suspect]
     Active Substance: CYCLOSPORINE
  440. CYCLOSPORINE [Suspect]
     Active Substance: CYCLOSPORINE
  441. CYCLOSPORINE [Suspect]
     Active Substance: CYCLOSPORINE
  442. CYCLOSPORINE [Suspect]
     Active Substance: CYCLOSPORINE
  443. CYCLOSPORINE [Suspect]
     Active Substance: CYCLOSPORINE
  444. CYCLOSPORINE [Suspect]
     Active Substance: CYCLOSPORINE
  445. CYCLOSPORINE [Suspect]
     Active Substance: CYCLOSPORINE
  446. CYCLOSPORINE [Suspect]
     Active Substance: CYCLOSPORINE
  447. CYCLOSPORINE [Suspect]
     Active Substance: CYCLOSPORINE
  448. MYCOPHENOLATE MOFETIL [Suspect]
     Active Substance: MYCOPHENOLATE MOFETIL
     Indication: Product used for unknown indication
     Route: 065
  449. MYCOPHENOLATE MOFETIL [Suspect]
     Active Substance: MYCOPHENOLATE MOFETIL
  450. MYCOPHENOLATE MOFETIL [Suspect]
     Active Substance: MYCOPHENOLATE MOFETIL
  451. MYCOPHENOLATE MOFETIL [Suspect]
     Active Substance: MYCOPHENOLATE MOFETIL
  452. MYCOPHENOLATE MOFETIL [Suspect]
     Active Substance: MYCOPHENOLATE MOFETIL
  453. MYCOPHENOLATE MOFETIL [Suspect]
     Active Substance: MYCOPHENOLATE MOFETIL
  454. MYCOPHENOLATE MOFETIL [Suspect]
     Active Substance: MYCOPHENOLATE MOFETIL
  455. RITUXIMAB [Suspect]
     Active Substance: RITUXIMAB
     Indication: Product used for unknown indication
     Route: 065
  456. RITUXIMAB [Suspect]
     Active Substance: RITUXIMAB
  457. RITUXIMAB [Suspect]
     Active Substance: RITUXIMAB
  458. RITUXIMAB [Suspect]
     Active Substance: RITUXIMAB
  459. RITUXIMAB [Suspect]
     Active Substance: RITUXIMAB
  460. RITUXIMAB [Suspect]
     Active Substance: RITUXIMAB
  461. RITUXIMAB [Suspect]
     Active Substance: RITUXIMAB
  462. RITUXIMAB [Suspect]
     Active Substance: RITUXIMAB
  463. RITUXIMAB [Suspect]
     Active Substance: RITUXIMAB
  464. RITUXIMAB [Suspect]
     Active Substance: RITUXIMAB
  465. RITUXIMAB [Suspect]
     Active Substance: RITUXIMAB
  466. RITUXIMAB [Suspect]
     Active Substance: RITUXIMAB
  467. RITUXIMAB [Suspect]
     Active Substance: RITUXIMAB
  468. RITUXIMAB [Suspect]
     Active Substance: RITUXIMAB
  469. RITUXIMAB [Suspect]
     Active Substance: RITUXIMAB
  470. RITUXIMAB [Suspect]
     Active Substance: RITUXIMAB
  471. RITUXIMAB [Suspect]
     Active Substance: RITUXIMAB
  472. RITUXIMAB [Suspect]
     Active Substance: RITUXIMAB
  473. RITUXIMAB [Suspect]
     Active Substance: RITUXIMAB
  474. RITUXIMAB [Suspect]
     Active Substance: RITUXIMAB
  475. RITUXIMAB [Suspect]
     Active Substance: RITUXIMAB
  476. RITUXIMAB [Suspect]
     Active Substance: RITUXIMAB
  477. RITUXIMAB [Suspect]
     Active Substance: RITUXIMAB
  478. RITUXIMAB [Suspect]
     Active Substance: RITUXIMAB
  479. RITUXIMAB [Suspect]
     Active Substance: RITUXIMAB
  480. RITUXIMAB [Suspect]
     Active Substance: RITUXIMAB
  481. RITUXIMAB [Suspect]
     Active Substance: RITUXIMAB
  482. RITUXIMAB [Suspect]
     Active Substance: RITUXIMAB
  483. ENOXAPARIN [Concomitant]
     Active Substance: ENOXAPARIN
     Indication: Autoimmune hypothyroidism
     Route: 065
  484. ENOXAPARIN [Concomitant]
     Active Substance: ENOXAPARIN
     Indication: Antiphospholipid syndrome
     Route: 065
  485. ENOXAPARIN [Concomitant]
     Active Substance: ENOXAPARIN
     Route: 065
  486. ENOXAPARIN [Concomitant]
     Active Substance: ENOXAPARIN
     Route: 065
  487. ENOXAPARIN [Concomitant]
     Active Substance: ENOXAPARIN
     Route: 065
  488. ENOXAPARIN [Concomitant]
     Active Substance: ENOXAPARIN
     Route: 065
  489. ENOXAPARIN [Concomitant]
     Active Substance: ENOXAPARIN
     Route: 065
  490. ENOXAPARIN [Concomitant]
     Active Substance: ENOXAPARIN
     Route: 065
  491. ENOXAPARIN [Concomitant]
     Active Substance: ENOXAPARIN
     Route: 065
  492. ENOXAPARIN [Concomitant]
     Active Substance: ENOXAPARIN
     Route: 065
  493. ENOXAPARIN [Concomitant]
     Active Substance: ENOXAPARIN
     Route: 065
  494. ENOXAPARIN [Concomitant]
     Active Substance: ENOXAPARIN
     Route: 065
  495. ENOXAPARIN [Concomitant]
     Active Substance: ENOXAPARIN
     Route: 065
  496. ENOXAPARIN [Concomitant]
     Active Substance: ENOXAPARIN
     Route: 065
  497. ENOXAPARIN [Concomitant]
     Active Substance: ENOXAPARIN
     Route: 065
  498. ENOXAPARIN [Concomitant]
     Active Substance: ENOXAPARIN
     Route: 065
  499. ENOXAPARIN [Concomitant]
     Active Substance: ENOXAPARIN
     Route: 065
  500. ENOXAPARIN [Concomitant]
     Active Substance: ENOXAPARIN
     Route: 065
  501. ENOXAPARIN [Concomitant]
     Active Substance: ENOXAPARIN
     Route: 065
  502. ENOXAPARIN [Concomitant]
     Active Substance: ENOXAPARIN
     Route: 065
  503. ENOXAPARIN [Concomitant]
     Active Substance: ENOXAPARIN
     Route: 065
  504. ENOXAPARIN [Concomitant]
     Active Substance: ENOXAPARIN
     Route: 065
  505. ENOXAPARIN [Concomitant]
     Active Substance: ENOXAPARIN
     Route: 065
  506. ENOXAPARIN [Concomitant]
     Active Substance: ENOXAPARIN
     Route: 065
  507. ENOXAPARIN [Concomitant]
     Active Substance: ENOXAPARIN
     Route: 065
  508. ENOXAPARIN [Concomitant]
     Active Substance: ENOXAPARIN
     Route: 065
  509. ENOXAPARIN [Concomitant]
     Active Substance: ENOXAPARIN
     Route: 065
  510. ENOXAPARIN [Concomitant]
     Active Substance: ENOXAPARIN
     Route: 065
  511. ENOXAPARIN [Concomitant]
     Active Substance: ENOXAPARIN
     Route: 065
  512. ENOXAPARIN [Concomitant]
     Active Substance: ENOXAPARIN
     Route: 065
  513. ENOXAPARIN [Concomitant]
     Active Substance: ENOXAPARIN
     Route: 065
  514. ENOXAPARIN [Concomitant]
     Active Substance: ENOXAPARIN
     Route: 065
  515. ENOXAPARIN [Concomitant]
     Active Substance: ENOXAPARIN
     Route: 065
  516. ENOXAPARIN [Concomitant]
     Active Substance: ENOXAPARIN
     Route: 065
  517. ENOXAPARIN [Concomitant]
     Active Substance: ENOXAPARIN
     Route: 065
  518. ENOXAPARIN [Concomitant]
     Active Substance: ENOXAPARIN
     Route: 065
  519. ENOXAPARIN [Concomitant]
     Active Substance: ENOXAPARIN
     Route: 065
  520. ENOXAPARIN [Concomitant]
     Active Substance: ENOXAPARIN
     Route: 065
  521. ENOXAPARIN [Concomitant]
     Active Substance: ENOXAPARIN
     Route: 065
  522. ENOXAPARIN [Concomitant]
     Active Substance: ENOXAPARIN
     Route: 065
  523. ENOXAPARIN [Concomitant]
     Active Substance: ENOXAPARIN
     Route: 065
  524. ENOXAPARIN [Concomitant]
     Active Substance: ENOXAPARIN
     Route: 065
  525. ENOXAPARIN [Concomitant]
     Active Substance: ENOXAPARIN
     Route: 065
  526. ENOXAPARIN [Concomitant]
     Active Substance: ENOXAPARIN
     Route: 065
  527. ENOXAPARIN [Concomitant]
     Active Substance: ENOXAPARIN
     Route: 065
  528. ENOXAPARIN [Concomitant]
     Active Substance: ENOXAPARIN
     Route: 065
  529. ENOXAPARIN [Concomitant]
     Active Substance: ENOXAPARIN
     Route: 065
  530. ENOXAPARIN [Concomitant]
     Active Substance: ENOXAPARIN
     Route: 065
  531. ENOXAPARIN [Concomitant]
     Active Substance: ENOXAPARIN
     Route: 065
  532. ENOXAPARIN [Concomitant]
     Active Substance: ENOXAPARIN
     Route: 065
  533. ENOXAPARIN [Concomitant]
     Active Substance: ENOXAPARIN
  534. ENOXAPARIN [Concomitant]
     Active Substance: ENOXAPARIN
  535. ENOXAPARIN [Concomitant]
     Active Substance: ENOXAPARIN
  536. ENOXAPARIN [Concomitant]
     Active Substance: ENOXAPARIN
  537. ENOXAPARIN [Concomitant]
     Active Substance: ENOXAPARIN
  538. ENOXAPARIN [Concomitant]
     Active Substance: ENOXAPARIN
  539. ENOXAPARIN [Concomitant]
     Active Substance: ENOXAPARIN
  540. ENOXAPARIN [Concomitant]
     Active Substance: ENOXAPARIN
  541. ENOXAPARIN [Concomitant]
     Active Substance: ENOXAPARIN
  542. ENOXAPARIN [Concomitant]
     Active Substance: ENOXAPARIN
  543. ENOXAPARIN [Concomitant]
     Active Substance: ENOXAPARIN
  544. ENOXAPARIN [Concomitant]
     Active Substance: ENOXAPARIN
  545. ENOXAPARIN [Concomitant]
     Active Substance: ENOXAPARIN
  546. ENOXAPARIN [Concomitant]
     Active Substance: ENOXAPARIN
  547. ENOXAPARIN [Concomitant]
     Active Substance: ENOXAPARIN
  548. ENOXAPARIN [Concomitant]
     Active Substance: ENOXAPARIN
  549. ENOXAPARIN [Concomitant]
     Active Substance: ENOXAPARIN
  550. ENOXAPARIN [Concomitant]
     Active Substance: ENOXAPARIN
  551. ENOXAPARIN [Concomitant]
     Active Substance: ENOXAPARIN
  552. ENOXAPARIN [Concomitant]
     Active Substance: ENOXAPARIN
  553. ENOXAPARIN [Concomitant]
     Active Substance: ENOXAPARIN
  554. ENOXAPARIN [Concomitant]
     Active Substance: ENOXAPARIN
  555. ENOXAPARIN [Concomitant]
     Active Substance: ENOXAPARIN
  556. ENOXAPARIN [Concomitant]
     Active Substance: ENOXAPARIN
  557. ENOXAPARIN [Concomitant]
     Active Substance: ENOXAPARIN
  558. ENOXAPARIN [Concomitant]
     Active Substance: ENOXAPARIN
  559. ENOXAPARIN [Concomitant]
     Active Substance: ENOXAPARIN
  560. ENOXAPARIN [Concomitant]
     Active Substance: ENOXAPARIN
  561. ENOXAPARIN [Concomitant]
     Active Substance: ENOXAPARIN
  562. ENOXAPARIN [Concomitant]
     Active Substance: ENOXAPARIN
  563. ENOXAPARIN [Concomitant]
     Active Substance: ENOXAPARIN
  564. ENOXAPARIN [Concomitant]
     Active Substance: ENOXAPARIN
  565. ENOXAPARIN [Concomitant]
     Active Substance: ENOXAPARIN
  566. ENOXAPARIN [Concomitant]
     Active Substance: ENOXAPARIN
  567. ENOXAPARIN [Concomitant]
     Active Substance: ENOXAPARIN
  568. ENOXAPARIN [Concomitant]
     Active Substance: ENOXAPARIN
  569. ENOXAPARIN [Concomitant]
     Active Substance: ENOXAPARIN
  570. ENOXAPARIN [Concomitant]
     Active Substance: ENOXAPARIN
  571. ENOXAPARIN [Concomitant]
     Active Substance: ENOXAPARIN
  572. ENOXAPARIN [Concomitant]
     Active Substance: ENOXAPARIN
  573. ENOXAPARIN [Concomitant]
     Active Substance: ENOXAPARIN
  574. ENOXAPARIN [Concomitant]
     Active Substance: ENOXAPARIN
  575. ENOXAPARIN [Concomitant]
     Active Substance: ENOXAPARIN
  576. ENOXAPARIN [Concomitant]
     Active Substance: ENOXAPARIN
  577. ENOXAPARIN [Concomitant]
     Active Substance: ENOXAPARIN
  578. ENOXAPARIN [Concomitant]
     Active Substance: ENOXAPARIN
  579. ENOXAPARIN [Concomitant]
     Active Substance: ENOXAPARIN
  580. ENOXAPARIN [Concomitant]
     Active Substance: ENOXAPARIN
  581. ENOXAPARIN [Concomitant]
     Active Substance: ENOXAPARIN
  582. ENOXAPARIN [Concomitant]
     Active Substance: ENOXAPARIN
  583. ENOXAPARIN [Concomitant]
     Active Substance: ENOXAPARIN
  584. ENOXAPARIN [Concomitant]
     Active Substance: ENOXAPARIN
  585. ENOXAPARIN [Concomitant]
     Active Substance: ENOXAPARIN
  586. ENOXAPARIN [Concomitant]
     Active Substance: ENOXAPARIN
  587. ENOXAPARIN [Concomitant]
     Active Substance: ENOXAPARIN
  588. ENOXAPARIN [Concomitant]
     Active Substance: ENOXAPARIN
  589. ENOXAPARIN [Concomitant]
     Active Substance: ENOXAPARIN
  590. ENOXAPARIN [Concomitant]
     Active Substance: ENOXAPARIN
  591. ENOXAPARIN [Concomitant]
     Active Substance: ENOXAPARIN
  592. ENOXAPARIN [Concomitant]
     Active Substance: ENOXAPARIN
  593. ENOXAPARIN [Concomitant]
     Active Substance: ENOXAPARIN
  594. ENOXAPARIN [Concomitant]
     Active Substance: ENOXAPARIN
  595. ENOXAPARIN [Concomitant]
     Active Substance: ENOXAPARIN
  596. ENOXAPARIN [Concomitant]
     Active Substance: ENOXAPARIN
  597. ENOXAPARIN [Concomitant]
     Active Substance: ENOXAPARIN
  598. ENOXAPARIN [Concomitant]
     Active Substance: ENOXAPARIN
  599. ENOXAPARIN [Concomitant]
     Active Substance: ENOXAPARIN
  600. ENOXAPARIN [Concomitant]
     Active Substance: ENOXAPARIN
  601. ENOXAPARIN [Concomitant]
     Active Substance: ENOXAPARIN
  602. ENOXAPARIN [Concomitant]
     Active Substance: ENOXAPARIN
  603. ENOXAPARIN [Concomitant]
     Active Substance: ENOXAPARIN
  604. ENOXAPARIN [Concomitant]
     Active Substance: ENOXAPARIN
  605. ENOXAPARIN [Concomitant]
     Active Substance: ENOXAPARIN
  606. ENOXAPARIN [Concomitant]
     Active Substance: ENOXAPARIN
  607. ENOXAPARIN [Concomitant]
     Active Substance: ENOXAPARIN
  608. ENOXAPARIN [Concomitant]
     Active Substance: ENOXAPARIN
  609. ENOXAPARIN [Concomitant]
     Active Substance: ENOXAPARIN
  610. ENOXAPARIN [Concomitant]
     Active Substance: ENOXAPARIN
  611. ENOXAPARIN [Concomitant]
     Active Substance: ENOXAPARIN
  612. ENOXAPARIN [Concomitant]
     Active Substance: ENOXAPARIN
  613. ENOXAPARIN [Concomitant]
     Active Substance: ENOXAPARIN
  614. ENOXAPARIN [Concomitant]
     Active Substance: ENOXAPARIN
  615. ENOXAPARIN [Concomitant]
     Active Substance: ENOXAPARIN
  616. ENOXAPARIN [Concomitant]
     Active Substance: ENOXAPARIN
  617. ENOXAPARIN [Concomitant]
     Active Substance: ENOXAPARIN
  618. ENOXAPARIN [Concomitant]
     Active Substance: ENOXAPARIN
  619. ENOXAPARIN [Concomitant]
     Active Substance: ENOXAPARIN
  620. ENOXAPARIN [Concomitant]
     Active Substance: ENOXAPARIN
  621. ENOXAPARIN [Concomitant]
     Active Substance: ENOXAPARIN
  622. ENOXAPARIN [Concomitant]
     Active Substance: ENOXAPARIN
  623. ENOXAPARIN [Concomitant]
     Active Substance: ENOXAPARIN
  624. ENOXAPARIN [Concomitant]
     Active Substance: ENOXAPARIN
  625. ENOXAPARIN [Concomitant]
     Active Substance: ENOXAPARIN
  626. ENOXAPARIN [Concomitant]
     Active Substance: ENOXAPARIN
  627. ENOXAPARIN [Concomitant]
     Active Substance: ENOXAPARIN
  628. ENOXAPARIN [Concomitant]
     Active Substance: ENOXAPARIN
  629. ENOXAPARIN [Concomitant]
     Active Substance: ENOXAPARIN
  630. ENOXAPARIN [Concomitant]
     Active Substance: ENOXAPARIN
  631. ENOXAPARIN [Concomitant]
     Active Substance: ENOXAPARIN
  632. ENOXAPARIN [Concomitant]
     Active Substance: ENOXAPARIN
  633. ENOXAPARIN [Concomitant]
     Active Substance: ENOXAPARIN
  634. ENOXAPARIN [Concomitant]
     Active Substance: ENOXAPARIN
  635. ENOXAPARIN [Concomitant]
     Active Substance: ENOXAPARIN
  636. ENOXAPARIN [Concomitant]
     Active Substance: ENOXAPARIN
  637. ENOXAPARIN [Concomitant]
     Active Substance: ENOXAPARIN
  638. ENOXAPARIN [Concomitant]
     Active Substance: ENOXAPARIN
  639. ENOXAPARIN [Concomitant]
     Active Substance: ENOXAPARIN
  640. ENOXAPARIN [Concomitant]
     Active Substance: ENOXAPARIN
  641. ENOXAPARIN [Concomitant]
     Active Substance: ENOXAPARIN
  642. ENOXAPARIN [Concomitant]
     Active Substance: ENOXAPARIN
  643. ENOXAPARIN [Concomitant]
     Active Substance: ENOXAPARIN
  644. ENOXAPARIN [Concomitant]
     Active Substance: ENOXAPARIN
  645. ENOXAPARIN [Concomitant]
     Active Substance: ENOXAPARIN
  646. ENOXAPARIN [Concomitant]
     Active Substance: ENOXAPARIN
  647. ENOXAPARIN [Concomitant]
     Active Substance: ENOXAPARIN
  648. ENOXAPARIN [Concomitant]
     Active Substance: ENOXAPARIN
  649. ENOXAPARIN [Concomitant]
     Active Substance: ENOXAPARIN
  650. ENOXAPARIN [Concomitant]
     Active Substance: ENOXAPARIN
  651. ENOXAPARIN [Concomitant]
     Active Substance: ENOXAPARIN
  652. ENOXAPARIN [Concomitant]
     Active Substance: ENOXAPARIN
  653. ENOXAPARIN [Concomitant]
     Active Substance: ENOXAPARIN
  654. ENOXAPARIN [Concomitant]
     Active Substance: ENOXAPARIN
  655. ENOXAPARIN [Concomitant]
     Active Substance: ENOXAPARIN
  656. ENOXAPARIN [Concomitant]
     Active Substance: ENOXAPARIN
  657. ENOXAPARIN [Concomitant]
     Active Substance: ENOXAPARIN
  658. ENOXAPARIN [Concomitant]
     Active Substance: ENOXAPARIN
  659. ENOXAPARIN [Concomitant]
     Active Substance: ENOXAPARIN
  660. ENOXAPARIN [Concomitant]
     Active Substance: ENOXAPARIN
  661. ENOXAPARIN [Concomitant]
     Active Substance: ENOXAPARIN
  662. ENOXAPARIN [Concomitant]
     Active Substance: ENOXAPARIN
  663. ENOXAPARIN [Concomitant]
     Active Substance: ENOXAPARIN
  664. ENOXAPARIN [Concomitant]
     Active Substance: ENOXAPARIN
  665. ENOXAPARIN [Concomitant]
     Active Substance: ENOXAPARIN
  666. ENOXAPARIN [Concomitant]
     Active Substance: ENOXAPARIN
  667. ENOXAPARIN [Concomitant]
     Active Substance: ENOXAPARIN
  668. ENOXAPARIN [Concomitant]
     Active Substance: ENOXAPARIN
  669. ENOXAPARIN [Concomitant]
     Active Substance: ENOXAPARIN
  670. ENOXAPARIN [Concomitant]
     Active Substance: ENOXAPARIN
  671. ENOXAPARIN [Concomitant]
     Active Substance: ENOXAPARIN
  672. ENOXAPARIN [Concomitant]
     Active Substance: ENOXAPARIN
  673. ENOXAPARIN [Concomitant]
     Active Substance: ENOXAPARIN
  674. ENOXAPARIN [Concomitant]
     Active Substance: ENOXAPARIN
  675. ENOXAPARIN [Concomitant]
     Active Substance: ENOXAPARIN
  676. ENOXAPARIN [Concomitant]
     Active Substance: ENOXAPARIN
  677. ENOXAPARIN [Concomitant]
     Active Substance: ENOXAPARIN
  678. ENOXAPARIN [Concomitant]
     Active Substance: ENOXAPARIN
  679. ENOXAPARIN [Concomitant]
     Active Substance: ENOXAPARIN
  680. ENOXAPARIN [Concomitant]
     Active Substance: ENOXAPARIN
  681. ENOXAPARIN [Concomitant]
     Active Substance: ENOXAPARIN
  682. ENOXAPARIN [Concomitant]
     Active Substance: ENOXAPARIN
  683. ENOXAPARIN [Concomitant]
     Active Substance: ENOXAPARIN
  684. ENOXAPARIN [Concomitant]
     Active Substance: ENOXAPARIN
  685. ENOXAPARIN [Concomitant]
     Active Substance: ENOXAPARIN
  686. ENOXAPARIN [Concomitant]
     Active Substance: ENOXAPARIN
  687. ENOXAPARIN [Concomitant]
     Active Substance: ENOXAPARIN
  688. ENOXAPARIN [Concomitant]
     Active Substance: ENOXAPARIN
  689. ENOXAPARIN [Concomitant]
     Active Substance: ENOXAPARIN
  690. ENOXAPARIN [Concomitant]
     Active Substance: ENOXAPARIN
  691. ENOXAPARIN [Concomitant]
     Active Substance: ENOXAPARIN
  692. ENOXAPARIN [Concomitant]
     Active Substance: ENOXAPARIN
  693. ENOXAPARIN [Concomitant]
     Active Substance: ENOXAPARIN
  694. ENOXAPARIN [Concomitant]
     Active Substance: ENOXAPARIN
  695. ENOXAPARIN [Concomitant]
     Active Substance: ENOXAPARIN
  696. ENOXAPARIN [Concomitant]
     Active Substance: ENOXAPARIN
  697. ENOXAPARIN [Concomitant]
     Active Substance: ENOXAPARIN
  698. ENOXAPARIN [Concomitant]
     Active Substance: ENOXAPARIN
  699. ENOXAPARIN [Concomitant]
     Active Substance: ENOXAPARIN
  700. ENOXAPARIN [Concomitant]
     Active Substance: ENOXAPARIN
  701. ENOXAPARIN [Concomitant]
     Active Substance: ENOXAPARIN
  702. ENOXAPARIN [Concomitant]
     Active Substance: ENOXAPARIN
  703. ENOXAPARIN [Concomitant]
     Active Substance: ENOXAPARIN
  704. ENOXAPARIN [Concomitant]
     Active Substance: ENOXAPARIN
  705. ENOXAPARIN [Concomitant]
     Active Substance: ENOXAPARIN
  706. ENOXAPARIN [Concomitant]
     Active Substance: ENOXAPARIN
  707. ENOXAPARIN [Concomitant]
     Active Substance: ENOXAPARIN
  708. ENOXAPARIN [Concomitant]
     Active Substance: ENOXAPARIN
  709. ENOXAPARIN [Concomitant]
     Active Substance: ENOXAPARIN
  710. ENOXAPARIN [Concomitant]
     Active Substance: ENOXAPARIN
  711. ENOXAPARIN [Concomitant]
     Active Substance: ENOXAPARIN
  712. ENOXAPARIN [Concomitant]
     Active Substance: ENOXAPARIN
  713. ENOXAPARIN [Concomitant]
     Active Substance: ENOXAPARIN
  714. ENOXAPARIN [Concomitant]
     Active Substance: ENOXAPARIN
  715. ENOXAPARIN [Concomitant]
     Active Substance: ENOXAPARIN
  716. ENOXAPARIN [Concomitant]
     Active Substance: ENOXAPARIN
  717. ENOXAPARIN [Concomitant]
     Active Substance: ENOXAPARIN
  718. ENOXAPARIN [Concomitant]
     Active Substance: ENOXAPARIN
  719. ENOXAPARIN [Concomitant]
     Active Substance: ENOXAPARIN
  720. ENOXAPARIN [Concomitant]
     Active Substance: ENOXAPARIN
  721. ENOXAPARIN [Concomitant]
     Active Substance: ENOXAPARIN
  722. ENOXAPARIN [Concomitant]
     Active Substance: ENOXAPARIN
  723. ENOXAPARIN [Concomitant]
     Active Substance: ENOXAPARIN
  724. ENOXAPARIN [Concomitant]
     Active Substance: ENOXAPARIN
  725. ENOXAPARIN [Concomitant]
     Active Substance: ENOXAPARIN
  726. ENOXAPARIN [Concomitant]
     Active Substance: ENOXAPARIN
  727. ENOXAPARIN [Concomitant]
     Active Substance: ENOXAPARIN
  728. ENOXAPARIN [Concomitant]
     Active Substance: ENOXAPARIN
  729. ENOXAPARIN [Concomitant]
     Active Substance: ENOXAPARIN
  730. ENOXAPARIN [Concomitant]
     Active Substance: ENOXAPARIN
  731. ENOXAPARIN [Concomitant]
     Active Substance: ENOXAPARIN
  732. ENOXAPARIN [Concomitant]
     Active Substance: ENOXAPARIN
  733. ENOXAPARIN [Concomitant]
     Active Substance: ENOXAPARIN
  734. ENOXAPARIN [Concomitant]
     Active Substance: ENOXAPARIN
  735. ENOXAPARIN [Concomitant]
     Active Substance: ENOXAPARIN
  736. ENOXAPARIN [Concomitant]
     Active Substance: ENOXAPARIN
  737. ENOXAPARIN [Concomitant]
     Active Substance: ENOXAPARIN
  738. ENOXAPARIN [Concomitant]
     Active Substance: ENOXAPARIN
  739. ENOXAPARIN [Concomitant]
     Active Substance: ENOXAPARIN
  740. ENOXAPARIN [Concomitant]
     Active Substance: ENOXAPARIN
  741. ENOXAPARIN [Concomitant]
     Active Substance: ENOXAPARIN
  742. ENOXAPARIN [Concomitant]
     Active Substance: ENOXAPARIN
  743. ENOXAPARIN [Concomitant]
     Active Substance: ENOXAPARIN
  744. ENOXAPARIN [Concomitant]
     Active Substance: ENOXAPARIN
  745. ENOXAPARIN [Concomitant]
     Active Substance: ENOXAPARIN
  746. ENOXAPARIN [Concomitant]
     Active Substance: ENOXAPARIN
  747. ENOXAPARIN [Concomitant]
     Active Substance: ENOXAPARIN
  748. ENOXAPARIN [Concomitant]
     Active Substance: ENOXAPARIN
  749. ENOXAPARIN [Concomitant]
     Active Substance: ENOXAPARIN
  750. ENOXAPARIN [Concomitant]
     Active Substance: ENOXAPARIN
  751. ENOXAPARIN [Concomitant]
     Active Substance: ENOXAPARIN
  752. ENOXAPARIN [Concomitant]
     Active Substance: ENOXAPARIN
  753. ENOXAPARIN [Concomitant]
     Active Substance: ENOXAPARIN
  754. ENOXAPARIN [Concomitant]
     Active Substance: ENOXAPARIN
  755. ENOXAPARIN [Concomitant]
     Active Substance: ENOXAPARIN
  756. ENOXAPARIN [Concomitant]
     Active Substance: ENOXAPARIN
  757. ENOXAPARIN [Concomitant]
     Active Substance: ENOXAPARIN
  758. ENOXAPARIN [Concomitant]
     Active Substance: ENOXAPARIN
  759. ENOXAPARIN [Concomitant]
     Active Substance: ENOXAPARIN
  760. ENOXAPARIN [Concomitant]
     Active Substance: ENOXAPARIN
  761. ENOXAPARIN [Concomitant]
     Active Substance: ENOXAPARIN
  762. ENOXAPARIN [Concomitant]
     Active Substance: ENOXAPARIN
  763. ENOXAPARIN [Concomitant]
     Active Substance: ENOXAPARIN
  764. ENOXAPARIN [Concomitant]
     Active Substance: ENOXAPARIN
  765. ENOXAPARIN [Concomitant]
     Active Substance: ENOXAPARIN
  766. ENOXAPARIN [Concomitant]
     Active Substance: ENOXAPARIN
  767. ENOXAPARIN [Concomitant]
     Active Substance: ENOXAPARIN
  768. ENOXAPARIN [Concomitant]
     Active Substance: ENOXAPARIN
  769. ENOXAPARIN [Concomitant]
     Active Substance: ENOXAPARIN
  770. ENOXAPARIN [Concomitant]
     Active Substance: ENOXAPARIN
  771. ENOXAPARIN [Concomitant]
     Active Substance: ENOXAPARIN
  772. ENOXAPARIN [Concomitant]
     Active Substance: ENOXAPARIN
  773. ENOXAPARIN [Concomitant]
     Active Substance: ENOXAPARIN
  774. ENOXAPARIN [Concomitant]
     Active Substance: ENOXAPARIN
  775. ENOXAPARIN [Concomitant]
     Active Substance: ENOXAPARIN
  776. ENOXAPARIN [Concomitant]
     Active Substance: ENOXAPARIN
  777. ENOXAPARIN [Concomitant]
     Active Substance: ENOXAPARIN
  778. ENOXAPARIN [Concomitant]
     Active Substance: ENOXAPARIN
  779. ENOXAPARIN [Concomitant]
     Active Substance: ENOXAPARIN
  780. ENOXAPARIN [Concomitant]
     Active Substance: ENOXAPARIN
  781. ENOXAPARIN [Concomitant]
     Active Substance: ENOXAPARIN
  782. ENOXAPARIN [Concomitant]
     Active Substance: ENOXAPARIN
  783. ENOXAPARIN [Concomitant]
     Active Substance: ENOXAPARIN
  784. ENOXAPARIN [Concomitant]
     Active Substance: ENOXAPARIN
  785. ENOXAPARIN [Concomitant]
     Active Substance: ENOXAPARIN
  786. ENOXAPARIN [Concomitant]
     Active Substance: ENOXAPARIN
  787. ENOXAPARIN [Concomitant]
     Active Substance: ENOXAPARIN
  788. ENOXAPARIN [Concomitant]
     Active Substance: ENOXAPARIN
  789. ENOXAPARIN [Concomitant]
     Active Substance: ENOXAPARIN
  790. ENOXAPARIN [Concomitant]
     Active Substance: ENOXAPARIN
  791. ENOXAPARIN [Concomitant]
     Active Substance: ENOXAPARIN
  792. ENOXAPARIN [Concomitant]
     Active Substance: ENOXAPARIN
  793. ENOXAPARIN [Concomitant]
     Active Substance: ENOXAPARIN
  794. ENOXAPARIN [Concomitant]
     Active Substance: ENOXAPARIN
  795. ENOXAPARIN [Concomitant]
     Active Substance: ENOXAPARIN
  796. ENOXAPARIN [Concomitant]
     Active Substance: ENOXAPARIN
  797. ENOXAPARIN [Concomitant]
     Active Substance: ENOXAPARIN
  798. ENOXAPARIN [Concomitant]
     Active Substance: ENOXAPARIN
  799. ENOXAPARIN [Concomitant]
     Active Substance: ENOXAPARIN
  800. ENOXAPARIN [Concomitant]
     Active Substance: ENOXAPARIN
  801. ENOXAPARIN [Concomitant]
     Active Substance: ENOXAPARIN
  802. ENOXAPARIN [Concomitant]
     Active Substance: ENOXAPARIN
  803. ENOXAPARIN [Concomitant]
     Active Substance: ENOXAPARIN
  804. ENOXAPARIN [Concomitant]
     Active Substance: ENOXAPARIN
  805. ENOXAPARIN [Concomitant]
     Active Substance: ENOXAPARIN
  806. ENOXAPARIN [Concomitant]
     Active Substance: ENOXAPARIN
  807. ENOXAPARIN [Concomitant]
     Active Substance: ENOXAPARIN
  808. ENOXAPARIN [Concomitant]
     Active Substance: ENOXAPARIN
  809. ENOXAPARIN [Concomitant]
     Active Substance: ENOXAPARIN
  810. ENOXAPARIN [Concomitant]
     Active Substance: ENOXAPARIN
  811. ENOXAPARIN [Concomitant]
     Active Substance: ENOXAPARIN
  812. ENOXAPARIN [Concomitant]
     Active Substance: ENOXAPARIN
  813. ENOXAPARIN [Concomitant]
     Active Substance: ENOXAPARIN
  814. ENOXAPARIN [Concomitant]
     Active Substance: ENOXAPARIN
  815. ENOXAPARIN [Concomitant]
     Active Substance: ENOXAPARIN
  816. ENOXAPARIN [Concomitant]
     Active Substance: ENOXAPARIN
  817. ENOXAPARIN [Concomitant]
     Active Substance: ENOXAPARIN
  818. ENOXAPARIN [Concomitant]
     Active Substance: ENOXAPARIN
  819. ENOXAPARIN [Concomitant]
     Active Substance: ENOXAPARIN
  820. ENOXAPARIN [Concomitant]
     Active Substance: ENOXAPARIN
  821. ENOXAPARIN [Concomitant]
     Active Substance: ENOXAPARIN
  822. ENOXAPARIN [Concomitant]
     Active Substance: ENOXAPARIN
  823. ENOXAPARIN [Concomitant]
     Active Substance: ENOXAPARIN
  824. ENOXAPARIN [Concomitant]
     Active Substance: ENOXAPARIN
  825. ENOXAPARIN [Concomitant]
     Active Substance: ENOXAPARIN
  826. ENOXAPARIN [Concomitant]
     Active Substance: ENOXAPARIN
  827. ENOXAPARIN [Concomitant]
     Active Substance: ENOXAPARIN
  828. ENOXAPARIN [Concomitant]
     Active Substance: ENOXAPARIN
  829. ENOXAPARIN [Concomitant]
     Active Substance: ENOXAPARIN
  830. ENOXAPARIN [Concomitant]
     Active Substance: ENOXAPARIN
  831. ENOXAPARIN [Concomitant]
     Active Substance: ENOXAPARIN
  832. ENOXAPARIN [Concomitant]
     Active Substance: ENOXAPARIN
  833. ENOXAPARIN [Concomitant]
     Active Substance: ENOXAPARIN
  834. ENOXAPARIN [Concomitant]
     Active Substance: ENOXAPARIN
  835. ENOXAPARIN [Concomitant]
     Active Substance: ENOXAPARIN
  836. ENOXAPARIN [Concomitant]
     Active Substance: ENOXAPARIN
  837. ENOXAPARIN [Concomitant]
     Active Substance: ENOXAPARIN
  838. ENOXAPARIN [Concomitant]
     Active Substance: ENOXAPARIN
  839. ENOXAPARIN [Concomitant]
     Active Substance: ENOXAPARIN
  840. ENOXAPARIN [Concomitant]
     Active Substance: ENOXAPARIN
  841. ENOXAPARIN [Concomitant]
     Active Substance: ENOXAPARIN
  842. ENOXAPARIN [Concomitant]
     Active Substance: ENOXAPARIN
  843. ENOXAPARIN [Concomitant]
     Active Substance: ENOXAPARIN
  844. ENOXAPARIN [Concomitant]
     Active Substance: ENOXAPARIN
  845. ENOXAPARIN [Concomitant]
     Active Substance: ENOXAPARIN
  846. ENOXAPARIN [Concomitant]
     Active Substance: ENOXAPARIN
  847. ENOXAPARIN [Concomitant]
     Active Substance: ENOXAPARIN
  848. ENOXAPARIN [Concomitant]
     Active Substance: ENOXAPARIN
  849. ENOXAPARIN [Concomitant]
     Active Substance: ENOXAPARIN
  850. ENOXAPARIN [Concomitant]
     Active Substance: ENOXAPARIN
  851. ENOXAPARIN [Concomitant]
     Active Substance: ENOXAPARIN
  852. ENOXAPARIN [Concomitant]
     Active Substance: ENOXAPARIN
  853. ENOXAPARIN [Concomitant]
     Active Substance: ENOXAPARIN
  854. ENOXAPARIN [Concomitant]
     Active Substance: ENOXAPARIN
  855. ENOXAPARIN [Concomitant]
     Active Substance: ENOXAPARIN
  856. ENOXAPARIN [Concomitant]
     Active Substance: ENOXAPARIN
  857. ENOXAPARIN [Concomitant]
     Active Substance: ENOXAPARIN
  858. ENOXAPARIN [Concomitant]
     Active Substance: ENOXAPARIN
  859. ENOXAPARIN [Concomitant]
     Active Substance: ENOXAPARIN
  860. ENOXAPARIN [Concomitant]
     Active Substance: ENOXAPARIN
  861. ENOXAPARIN [Concomitant]
     Active Substance: ENOXAPARIN
  862. ENOXAPARIN [Concomitant]
     Active Substance: ENOXAPARIN
  863. ENOXAPARIN [Concomitant]
     Active Substance: ENOXAPARIN
  864. ENOXAPARIN [Concomitant]
     Active Substance: ENOXAPARIN
  865. ENOXAPARIN [Concomitant]
     Active Substance: ENOXAPARIN
  866. ENOXAPARIN [Concomitant]
     Active Substance: ENOXAPARIN
  867. ENOXAPARIN [Concomitant]
     Active Substance: ENOXAPARIN
  868. ENOXAPARIN [Concomitant]
     Active Substance: ENOXAPARIN
  869. ENOXAPARIN [Concomitant]
     Active Substance: ENOXAPARIN
  870. ENOXAPARIN [Concomitant]
     Active Substance: ENOXAPARIN
  871. ENOXAPARIN [Concomitant]
     Active Substance: ENOXAPARIN
  872. ENOXAPARIN [Concomitant]
     Active Substance: ENOXAPARIN
  873. ENOXAPARIN [Concomitant]
     Active Substance: ENOXAPARIN
  874. ENOXAPARIN [Concomitant]
     Active Substance: ENOXAPARIN
  875. ENOXAPARIN [Concomitant]
     Active Substance: ENOXAPARIN
  876. ENOXAPARIN [Concomitant]
     Active Substance: ENOXAPARIN
  877. ENOXAPARIN [Concomitant]
     Active Substance: ENOXAPARIN
  878. ENOXAPARIN [Concomitant]
     Active Substance: ENOXAPARIN
  879. ENOXAPARIN [Concomitant]
     Active Substance: ENOXAPARIN
  880. ENOXAPARIN [Concomitant]
     Active Substance: ENOXAPARIN
  881. ENOXAPARIN [Concomitant]
     Active Substance: ENOXAPARIN
  882. ENOXAPARIN [Concomitant]
     Active Substance: ENOXAPARIN
  883. ENOXAPARIN [Concomitant]
     Active Substance: ENOXAPARIN
  884. ENOXAPARIN [Concomitant]
     Active Substance: ENOXAPARIN
  885. ENOXAPARIN [Concomitant]
     Active Substance: ENOXAPARIN
  886. ENOXAPARIN [Concomitant]
     Active Substance: ENOXAPARIN
  887. ENOXAPARIN [Concomitant]
     Active Substance: ENOXAPARIN
  888. ENOXAPARIN [Concomitant]
     Active Substance: ENOXAPARIN
  889. ENOXAPARIN [Concomitant]
     Active Substance: ENOXAPARIN
  890. ENOXAPARIN [Concomitant]
     Active Substance: ENOXAPARIN
  891. ENOXAPARIN [Concomitant]
     Active Substance: ENOXAPARIN
  892. ENOXAPARIN [Concomitant]
     Active Substance: ENOXAPARIN
  893. ENOXAPARIN [Concomitant]
     Active Substance: ENOXAPARIN
  894. ENOXAPARIN [Concomitant]
     Active Substance: ENOXAPARIN
  895. ENOXAPARIN [Concomitant]
     Active Substance: ENOXAPARIN
  896. ENOXAPARIN [Concomitant]
     Active Substance: ENOXAPARIN
  897. ENOXAPARIN [Concomitant]
     Active Substance: ENOXAPARIN
  898. ENOXAPARIN [Concomitant]
     Active Substance: ENOXAPARIN
  899. ENOXAPARIN [Concomitant]
     Active Substance: ENOXAPARIN
  900. ENOXAPARIN [Concomitant]
     Active Substance: ENOXAPARIN
  901. ENOXAPARIN [Concomitant]
     Active Substance: ENOXAPARIN
  902. ENOXAPARIN [Concomitant]
     Active Substance: ENOXAPARIN
  903. ENOXAPARIN [Concomitant]
     Active Substance: ENOXAPARIN
  904. ENOXAPARIN [Concomitant]
     Active Substance: ENOXAPARIN
  905. ENOXAPARIN [Concomitant]
     Active Substance: ENOXAPARIN
  906. ENOXAPARIN [Concomitant]
     Active Substance: ENOXAPARIN
  907. ENOXAPARIN [Concomitant]
     Active Substance: ENOXAPARIN
  908. ENOXAPARIN [Concomitant]
     Active Substance: ENOXAPARIN
  909. ENOXAPARIN [Concomitant]
     Active Substance: ENOXAPARIN
  910. ENOXAPARIN [Concomitant]
     Active Substance: ENOXAPARIN
  911. ENOXAPARIN [Concomitant]
     Active Substance: ENOXAPARIN
  912. ENOXAPARIN [Concomitant]
     Active Substance: ENOXAPARIN
  913. ENOXAPARIN [Concomitant]
     Active Substance: ENOXAPARIN
  914. ENOXAPARIN [Concomitant]
     Active Substance: ENOXAPARIN
  915. ENOXAPARIN [Concomitant]
     Active Substance: ENOXAPARIN
  916. ENOXAPARIN [Concomitant]
     Active Substance: ENOXAPARIN
  917. ENOXAPARIN [Concomitant]
     Active Substance: ENOXAPARIN
  918. ENOXAPARIN [Concomitant]
     Active Substance: ENOXAPARIN
  919. ENOXAPARIN [Concomitant]
     Active Substance: ENOXAPARIN
  920. ENOXAPARIN [Concomitant]
     Active Substance: ENOXAPARIN
  921. ENOXAPARIN [Concomitant]
     Active Substance: ENOXAPARIN
  922. ENOXAPARIN [Concomitant]
     Active Substance: ENOXAPARIN
  923. ENOXAPARIN [Concomitant]
     Active Substance: ENOXAPARIN
  924. ENOXAPARIN [Concomitant]
     Active Substance: ENOXAPARIN
  925. ENOXAPARIN [Concomitant]
     Active Substance: ENOXAPARIN
  926. ENOXAPARIN [Concomitant]
     Active Substance: ENOXAPARIN
  927. ENOXAPARIN [Concomitant]
     Active Substance: ENOXAPARIN
  928. ENOXAPARIN [Concomitant]
     Active Substance: ENOXAPARIN
  929. ENOXAPARIN [Concomitant]
     Active Substance: ENOXAPARIN
  930. ENOXAPARIN [Concomitant]
     Active Substance: ENOXAPARIN
  931. ENOXAPARIN [Concomitant]
     Active Substance: ENOXAPARIN
  932. ENOXAPARIN [Concomitant]
     Active Substance: ENOXAPARIN
  933. ENOXAPARIN [Concomitant]
     Active Substance: ENOXAPARIN
  934. ENOXAPARIN [Concomitant]
     Active Substance: ENOXAPARIN
  935. ENOXAPARIN [Concomitant]
     Active Substance: ENOXAPARIN
  936. ENOXAPARIN [Concomitant]
     Active Substance: ENOXAPARIN
  937. ENOXAPARIN [Concomitant]
     Active Substance: ENOXAPARIN
  938. ENOXAPARIN [Concomitant]
     Active Substance: ENOXAPARIN
  939. ENOXAPARIN [Concomitant]
     Active Substance: ENOXAPARIN
  940. ENOXAPARIN [Concomitant]
     Active Substance: ENOXAPARIN
  941. ENOXAPARIN [Concomitant]
     Active Substance: ENOXAPARIN
  942. ENOXAPARIN [Concomitant]
     Active Substance: ENOXAPARIN
  943. ENOXAPARIN [Concomitant]
     Active Substance: ENOXAPARIN
  944. ENOXAPARIN [Concomitant]
     Active Substance: ENOXAPARIN
  945. ENOXAPARIN [Concomitant]
     Active Substance: ENOXAPARIN
  946. ENOXAPARIN [Concomitant]
     Active Substance: ENOXAPARIN
  947. ENOXAPARIN [Concomitant]
     Active Substance: ENOXAPARIN
  948. ENOXAPARIN [Concomitant]
     Active Substance: ENOXAPARIN
  949. ENOXAPARIN [Concomitant]
     Active Substance: ENOXAPARIN
  950. ENOXAPARIN [Concomitant]
     Active Substance: ENOXAPARIN
  951. ENOXAPARIN [Concomitant]
     Active Substance: ENOXAPARIN
  952. ENOXAPARIN [Concomitant]
     Active Substance: ENOXAPARIN
  953. ENOXAPARIN [Concomitant]
     Active Substance: ENOXAPARIN
  954. ENOXAPARIN [Concomitant]
     Active Substance: ENOXAPARIN
  955. ENOXAPARIN [Concomitant]
     Active Substance: ENOXAPARIN
  956. ENOXAPARIN [Concomitant]
     Active Substance: ENOXAPARIN
  957. ENOXAPARIN [Concomitant]
     Active Substance: ENOXAPARIN
  958. ENOXAPARIN [Concomitant]
     Active Substance: ENOXAPARIN
  959. ENOXAPARIN [Concomitant]
     Active Substance: ENOXAPARIN
  960. ENOXAPARIN [Concomitant]
     Active Substance: ENOXAPARIN
  961. ENOXAPARIN [Concomitant]
     Active Substance: ENOXAPARIN
  962. ENOXAPARIN [Concomitant]
     Active Substance: ENOXAPARIN
  963. ENOXAPARIN [Concomitant]
     Active Substance: ENOXAPARIN
  964. ENOXAPARIN [Concomitant]
     Active Substance: ENOXAPARIN
  965. ENOXAPARIN [Concomitant]
     Active Substance: ENOXAPARIN
  966. ENOXAPARIN [Concomitant]
     Active Substance: ENOXAPARIN
  967. ENOXAPARIN [Concomitant]
     Active Substance: ENOXAPARIN
  968. ENOXAPARIN [Concomitant]
     Active Substance: ENOXAPARIN
  969. ENOXAPARIN [Concomitant]
     Active Substance: ENOXAPARIN
  970. ENOXAPARIN [Concomitant]
     Active Substance: ENOXAPARIN
  971. ENOXAPARIN [Concomitant]
     Active Substance: ENOXAPARIN
  972. ENOXAPARIN [Concomitant]
     Active Substance: ENOXAPARIN
  973. ENOXAPARIN [Concomitant]
     Active Substance: ENOXAPARIN
  974. ENOXAPARIN [Concomitant]
     Active Substance: ENOXAPARIN
  975. ENOXAPARIN [Concomitant]
     Active Substance: ENOXAPARIN
  976. ENOXAPARIN [Concomitant]
     Active Substance: ENOXAPARIN
  977. ENOXAPARIN [Concomitant]
     Active Substance: ENOXAPARIN
  978. ENOXAPARIN [Concomitant]
     Active Substance: ENOXAPARIN
  979. ENOXAPARIN [Concomitant]
     Active Substance: ENOXAPARIN
  980. ENOXAPARIN [Concomitant]
     Active Substance: ENOXAPARIN
  981. ENOXAPARIN [Concomitant]
     Active Substance: ENOXAPARIN
  982. ENOXAPARIN [Concomitant]
     Active Substance: ENOXAPARIN
  983. ENOXAPARIN [Concomitant]
     Active Substance: ENOXAPARIN
  984. ENOXAPARIN [Concomitant]
     Active Substance: ENOXAPARIN
  985. ENOXAPARIN [Concomitant]
     Active Substance: ENOXAPARIN
  986. ENOXAPARIN [Concomitant]
     Active Substance: ENOXAPARIN
  987. ENOXAPARIN [Concomitant]
     Active Substance: ENOXAPARIN
  988. ENOXAPARIN [Concomitant]
     Active Substance: ENOXAPARIN
  989. ENOXAPARIN [Concomitant]
     Active Substance: ENOXAPARIN
  990. ENOXAPARIN [Concomitant]
     Active Substance: ENOXAPARIN
  991. ENOXAPARIN [Concomitant]
     Active Substance: ENOXAPARIN
  992. ENOXAPARIN [Concomitant]
     Active Substance: ENOXAPARIN
  993. ENOXAPARIN [Concomitant]
     Active Substance: ENOXAPARIN
  994. ENOXAPARIN [Concomitant]
     Active Substance: ENOXAPARIN
  995. ENOXAPARIN [Concomitant]
     Active Substance: ENOXAPARIN
  996. ENOXAPARIN [Concomitant]
     Active Substance: ENOXAPARIN
  997. ENOXAPARIN [Concomitant]
     Active Substance: ENOXAPARIN
  998. ENOXAPARIN [Concomitant]
     Active Substance: ENOXAPARIN
  999. ENOXAPARIN [Concomitant]
     Active Substance: ENOXAPARIN
  1000. ENOXAPARIN [Concomitant]
     Active Substance: ENOXAPARIN
  1001. ENOXAPARIN [Concomitant]
     Active Substance: ENOXAPARIN
  1002. ENOXAPARIN [Concomitant]
     Active Substance: ENOXAPARIN
  1003. ENOXAPARIN [Concomitant]
     Active Substance: ENOXAPARIN
  1004. ENOXAPARIN [Concomitant]
     Active Substance: ENOXAPARIN
  1005. ENOXAPARIN [Concomitant]
     Active Substance: ENOXAPARIN
  1006. ENOXAPARIN [Concomitant]
     Active Substance: ENOXAPARIN
  1007. ENOXAPARIN [Concomitant]
     Active Substance: ENOXAPARIN
  1008. ENOXAPARIN [Concomitant]
     Active Substance: ENOXAPARIN
  1009. ENOXAPARIN [Concomitant]
     Active Substance: ENOXAPARIN
  1010. ENOXAPARIN [Concomitant]
     Active Substance: ENOXAPARIN
  1011. ENOXAPARIN [Concomitant]
     Active Substance: ENOXAPARIN
  1012. ENOXAPARIN [Concomitant]
     Active Substance: ENOXAPARIN
  1013. ENOXAPARIN [Concomitant]
     Active Substance: ENOXAPARIN
  1014. ENOXAPARIN [Concomitant]
     Active Substance: ENOXAPARIN
  1015. ENOXAPARIN [Concomitant]
     Active Substance: ENOXAPARIN
  1016. ENOXAPARIN [Concomitant]
     Active Substance: ENOXAPARIN
  1017. ENOXAPARIN [Concomitant]
     Active Substance: ENOXAPARIN
  1018. ENOXAPARIN [Concomitant]
     Active Substance: ENOXAPARIN
  1019. ENOXAPARIN [Concomitant]
     Active Substance: ENOXAPARIN
  1020. ENOXAPARIN [Concomitant]
     Active Substance: ENOXAPARIN
  1021. ENOXAPARIN [Concomitant]
     Active Substance: ENOXAPARIN
  1022. ENOXAPARIN [Concomitant]
     Active Substance: ENOXAPARIN
  1023. ENOXAPARIN [Concomitant]
     Active Substance: ENOXAPARIN
  1024. ENOXAPARIN [Concomitant]
     Active Substance: ENOXAPARIN
  1025. ENOXAPARIN [Concomitant]
     Active Substance: ENOXAPARIN
  1026. ENOXAPARIN [Concomitant]
     Active Substance: ENOXAPARIN
  1027. ENOXAPARIN [Concomitant]
     Active Substance: ENOXAPARIN
  1028. ENOXAPARIN [Concomitant]
     Active Substance: ENOXAPARIN
  1029. ENOXAPARIN [Concomitant]
     Active Substance: ENOXAPARIN
  1030. ENOXAPARIN [Concomitant]
     Active Substance: ENOXAPARIN
  1031. ENOXAPARIN [Concomitant]
     Active Substance: ENOXAPARIN
  1032. ENOXAPARIN [Concomitant]
     Active Substance: ENOXAPARIN
  1033. ENOXAPARIN [Concomitant]
     Active Substance: ENOXAPARIN
  1034. ENOXAPARIN [Concomitant]
     Active Substance: ENOXAPARIN
  1035. ENOXAPARIN [Concomitant]
     Active Substance: ENOXAPARIN
  1036. ENOXAPARIN [Concomitant]
     Active Substance: ENOXAPARIN
  1037. ENOXAPARIN [Concomitant]
     Active Substance: ENOXAPARIN
  1038. ENOXAPARIN [Concomitant]
     Active Substance: ENOXAPARIN
  1039. ENOXAPARIN [Concomitant]
     Active Substance: ENOXAPARIN
  1040. ENOXAPARIN [Concomitant]
     Active Substance: ENOXAPARIN
  1041. ENOXAPARIN [Concomitant]
     Active Substance: ENOXAPARIN
  1042. ENOXAPARIN [Concomitant]
     Active Substance: ENOXAPARIN
  1043. ENOXAPARIN [Concomitant]
     Active Substance: ENOXAPARIN
  1044. ENOXAPARIN [Concomitant]
     Active Substance: ENOXAPARIN
  1045. ENOXAPARIN [Concomitant]
     Active Substance: ENOXAPARIN
  1046. ENOXAPARIN [Concomitant]
     Active Substance: ENOXAPARIN
  1047. ENOXAPARIN [Concomitant]
     Active Substance: ENOXAPARIN
  1048. ENOXAPARIN [Concomitant]
     Active Substance: ENOXAPARIN
  1049. ENOXAPARIN [Concomitant]
     Active Substance: ENOXAPARIN
  1050. ENOXAPARIN [Concomitant]
     Active Substance: ENOXAPARIN
  1051. ENOXAPARIN [Concomitant]
     Active Substance: ENOXAPARIN
  1052. ENOXAPARIN [Concomitant]
     Active Substance: ENOXAPARIN
  1053. ENOXAPARIN [Concomitant]
     Active Substance: ENOXAPARIN
  1054. ENOXAPARIN [Concomitant]
     Active Substance: ENOXAPARIN
  1055. ENOXAPARIN [Concomitant]
     Active Substance: ENOXAPARIN
  1056. ENOXAPARIN [Concomitant]
     Active Substance: ENOXAPARIN
  1057. ENOXAPARIN [Concomitant]
     Active Substance: ENOXAPARIN
  1058. ENOXAPARIN [Concomitant]
     Active Substance: ENOXAPARIN
  1059. ENOXAPARIN [Concomitant]
     Active Substance: ENOXAPARIN
  1060. ENOXAPARIN [Concomitant]
     Active Substance: ENOXAPARIN
  1061. ENOXAPARIN [Concomitant]
     Active Substance: ENOXAPARIN
  1062. ENOXAPARIN [Concomitant]
     Active Substance: ENOXAPARIN
  1063. ENOXAPARIN [Concomitant]
     Active Substance: ENOXAPARIN
  1064. ENOXAPARIN [Concomitant]
     Active Substance: ENOXAPARIN
  1065. ENOXAPARIN [Concomitant]
     Active Substance: ENOXAPARIN
  1066. ENOXAPARIN [Concomitant]
     Active Substance: ENOXAPARIN
  1067. ENOXAPARIN [Concomitant]
     Active Substance: ENOXAPARIN
  1068. ENOXAPARIN [Concomitant]
     Active Substance: ENOXAPARIN
  1069. ENOXAPARIN [Concomitant]
     Active Substance: ENOXAPARIN
  1070. ENOXAPARIN [Concomitant]
     Active Substance: ENOXAPARIN
  1071. ENOXAPARIN [Concomitant]
     Active Substance: ENOXAPARIN
  1072. ENOXAPARIN [Concomitant]
     Active Substance: ENOXAPARIN
  1073. ENOXAPARIN [Concomitant]
     Active Substance: ENOXAPARIN
  1074. ENOXAPARIN [Concomitant]
     Active Substance: ENOXAPARIN
  1075. ENOXAPARIN [Concomitant]
     Active Substance: ENOXAPARIN
  1076. ENOXAPARIN [Concomitant]
     Active Substance: ENOXAPARIN
  1077. ENOXAPARIN [Concomitant]
     Active Substance: ENOXAPARIN
  1078. ENOXAPARIN [Concomitant]
     Active Substance: ENOXAPARIN
  1079. ENOXAPARIN [Concomitant]
     Active Substance: ENOXAPARIN
  1080. ENOXAPARIN [Concomitant]
     Active Substance: ENOXAPARIN
  1081. ENOXAPARIN [Concomitant]
     Active Substance: ENOXAPARIN
  1082. ENOXAPARIN [Concomitant]
     Active Substance: ENOXAPARIN
  1083. ENOXAPARIN [Concomitant]
     Active Substance: ENOXAPARIN
  1084. ENOXAPARIN [Concomitant]
     Active Substance: ENOXAPARIN
  1085. ENOXAPARIN [Concomitant]
     Active Substance: ENOXAPARIN
  1086. ENOXAPARIN [Concomitant]
     Active Substance: ENOXAPARIN
  1087. ENOXAPARIN [Concomitant]
     Active Substance: ENOXAPARIN
  1088. ENOXAPARIN [Concomitant]
     Active Substance: ENOXAPARIN
  1089. ENOXAPARIN [Concomitant]
     Active Substance: ENOXAPARIN
  1090. ENOXAPARIN [Concomitant]
     Active Substance: ENOXAPARIN
  1091. ENOXAPARIN [Concomitant]
     Active Substance: ENOXAPARIN
  1092. ENOXAPARIN [Concomitant]
     Active Substance: ENOXAPARIN
  1093. ENOXAPARIN [Concomitant]
     Active Substance: ENOXAPARIN
  1094. ENOXAPARIN [Concomitant]
     Active Substance: ENOXAPARIN
  1095. ENOXAPARIN [Concomitant]
     Active Substance: ENOXAPARIN
  1096. ENOXAPARIN [Concomitant]
     Active Substance: ENOXAPARIN
  1097. ENOXAPARIN [Concomitant]
     Active Substance: ENOXAPARIN
  1098. ENOXAPARIN [Concomitant]
     Active Substance: ENOXAPARIN
  1099. ENOXAPARIN [Concomitant]
     Active Substance: ENOXAPARIN
  1100. ENOXAPARIN [Concomitant]
     Active Substance: ENOXAPARIN
  1101. ENOXAPARIN [Concomitant]
     Active Substance: ENOXAPARIN
  1102. ENOXAPARIN [Concomitant]
     Active Substance: ENOXAPARIN
  1103. ENOXAPARIN [Concomitant]
     Active Substance: ENOXAPARIN
  1104. ENOXAPARIN [Concomitant]
     Active Substance: ENOXAPARIN
  1105. ENOXAPARIN [Concomitant]
     Active Substance: ENOXAPARIN
  1106. ENOXAPARIN [Concomitant]
     Active Substance: ENOXAPARIN
  1107. ENOXAPARIN [Concomitant]
     Active Substance: ENOXAPARIN
  1108. ENOXAPARIN [Concomitant]
     Active Substance: ENOXAPARIN
  1109. ENOXAPARIN [Concomitant]
     Active Substance: ENOXAPARIN
  1110. ENOXAPARIN [Concomitant]
     Active Substance: ENOXAPARIN
  1111. ENOXAPARIN [Concomitant]
     Active Substance: ENOXAPARIN
  1112. ENOXAPARIN [Concomitant]
     Active Substance: ENOXAPARIN
  1113. ENOXAPARIN [Concomitant]
     Active Substance: ENOXAPARIN
  1114. ENOXAPARIN [Concomitant]
     Active Substance: ENOXAPARIN
  1115. ENOXAPARIN [Concomitant]
     Active Substance: ENOXAPARIN
  1116. ENOXAPARIN [Concomitant]
     Active Substance: ENOXAPARIN
  1117. ENOXAPARIN [Concomitant]
     Active Substance: ENOXAPARIN
  1118. ENOXAPARIN [Concomitant]
     Active Substance: ENOXAPARIN
  1119. ENOXAPARIN [Concomitant]
     Active Substance: ENOXAPARIN
  1120. ENOXAPARIN [Concomitant]
     Active Substance: ENOXAPARIN
  1121. ENOXAPARIN [Concomitant]
     Active Substance: ENOXAPARIN
  1122. ENOXAPARIN [Concomitant]
     Active Substance: ENOXAPARIN
  1123. ENOXAPARIN [Concomitant]
     Active Substance: ENOXAPARIN
  1124. ENOXAPARIN [Concomitant]
     Active Substance: ENOXAPARIN
  1125. ENOXAPARIN [Concomitant]
     Active Substance: ENOXAPARIN
  1126. ENOXAPARIN [Concomitant]
     Active Substance: ENOXAPARIN
  1127. ENOXAPARIN [Concomitant]
     Active Substance: ENOXAPARIN
  1128. ENOXAPARIN [Concomitant]
     Active Substance: ENOXAPARIN
  1129. ENOXAPARIN [Concomitant]
     Active Substance: ENOXAPARIN
  1130. ENOXAPARIN [Concomitant]
     Active Substance: ENOXAPARIN
  1131. ENOXAPARIN [Concomitant]
     Active Substance: ENOXAPARIN
  1132. ENOXAPARIN [Concomitant]
     Active Substance: ENOXAPARIN
  1133. ENOXAPARIN [Concomitant]
     Active Substance: ENOXAPARIN
  1134. ENOXAPARIN [Concomitant]
     Active Substance: ENOXAPARIN
  1135. ENOXAPARIN [Concomitant]
     Active Substance: ENOXAPARIN
  1136. ENOXAPARIN [Concomitant]
     Active Substance: ENOXAPARIN
  1137. ENOXAPARIN [Concomitant]
     Active Substance: ENOXAPARIN
  1138. ENOXAPARIN [Concomitant]
     Active Substance: ENOXAPARIN
  1139. ENOXAPARIN [Concomitant]
     Active Substance: ENOXAPARIN
  1140. ENOXAPARIN [Concomitant]
     Active Substance: ENOXAPARIN
  1141. ENOXAPARIN [Concomitant]
     Active Substance: ENOXAPARIN
  1142. ENOXAPARIN [Concomitant]
     Active Substance: ENOXAPARIN
  1143. ENOXAPARIN [Concomitant]
     Active Substance: ENOXAPARIN
  1144. ENOXAPARIN [Concomitant]
     Active Substance: ENOXAPARIN
  1145. ENOXAPARIN [Concomitant]
     Active Substance: ENOXAPARIN
  1146. ENOXAPARIN [Concomitant]
     Active Substance: ENOXAPARIN
  1147. ENOXAPARIN [Concomitant]
     Active Substance: ENOXAPARIN
  1148. ENOXAPARIN [Concomitant]
     Active Substance: ENOXAPARIN
  1149. ENOXAPARIN [Concomitant]
     Active Substance: ENOXAPARIN
  1150. ENOXAPARIN [Concomitant]
     Active Substance: ENOXAPARIN
  1151. ENOXAPARIN [Concomitant]
     Active Substance: ENOXAPARIN
  1152. ENOXAPARIN [Concomitant]
     Active Substance: ENOXAPARIN
  1153. ENOXAPARIN [Concomitant]
     Active Substance: ENOXAPARIN
  1154. ENOXAPARIN [Concomitant]
     Active Substance: ENOXAPARIN
  1155. ENOXAPARIN [Concomitant]
     Active Substance: ENOXAPARIN
  1156. ENOXAPARIN [Concomitant]
     Active Substance: ENOXAPARIN
  1157. ENOXAPARIN [Concomitant]
     Active Substance: ENOXAPARIN
  1158. ENOXAPARIN [Concomitant]
     Active Substance: ENOXAPARIN
  1159. ENOXAPARIN [Concomitant]
     Active Substance: ENOXAPARIN
  1160. ENOXAPARIN [Concomitant]
     Active Substance: ENOXAPARIN
  1161. ENOXAPARIN [Concomitant]
     Active Substance: ENOXAPARIN
  1162. ENOXAPARIN [Concomitant]
     Active Substance: ENOXAPARIN
  1163. ENOXAPARIN [Concomitant]
     Active Substance: ENOXAPARIN
  1164. ENOXAPARIN [Concomitant]
     Active Substance: ENOXAPARIN
  1165. ENOXAPARIN [Concomitant]
     Active Substance: ENOXAPARIN
  1166. ENOXAPARIN [Concomitant]
     Active Substance: ENOXAPARIN
  1167. ENOXAPARIN [Concomitant]
     Active Substance: ENOXAPARIN
  1168. ENOXAPARIN [Concomitant]
     Active Substance: ENOXAPARIN
  1169. ENOXAPARIN [Concomitant]
     Active Substance: ENOXAPARIN
  1170. ENOXAPARIN [Concomitant]
     Active Substance: ENOXAPARIN
  1171. ENOXAPARIN [Concomitant]
     Active Substance: ENOXAPARIN
  1172. ENOXAPARIN [Concomitant]
     Active Substance: ENOXAPARIN
  1173. ENOXAPARIN [Concomitant]
     Active Substance: ENOXAPARIN
  1174. ENOXAPARIN [Concomitant]
     Active Substance: ENOXAPARIN
  1175. ENOXAPARIN [Concomitant]
     Active Substance: ENOXAPARIN
  1176. ENOXAPARIN [Concomitant]
     Active Substance: ENOXAPARIN
  1177. ENOXAPARIN [Concomitant]
     Active Substance: ENOXAPARIN
  1178. ENOXAPARIN [Concomitant]
     Active Substance: ENOXAPARIN
  1179. ENOXAPARIN [Concomitant]
     Active Substance: ENOXAPARIN
  1180. ENOXAPARIN [Concomitant]
     Active Substance: ENOXAPARIN
  1181. ENOXAPARIN [Concomitant]
     Active Substance: ENOXAPARIN
  1182. ENOXAPARIN [Concomitant]
     Active Substance: ENOXAPARIN
  1183. ENOXAPARIN [Concomitant]
     Active Substance: ENOXAPARIN
  1184. AZATHIOPRINE [Suspect]
     Active Substance: AZATHIOPRINE
     Indication: Product used for unknown indication
     Route: 065

REACTIONS (7)
  - Angioedema [Unknown]
  - Emotional distress [Unknown]
  - Mental disorder [Unknown]
  - Emotional distress [Unknown]
  - Disease recurrence [Unknown]
  - Chronic spontaneous urticaria [Unknown]
  - Treatment failure [Unknown]
